FAERS Safety Report 22283675 (Version 8)
Quarter: 2025Q3

REPORT INFORMATION
  Report Type: Spontaneous
  Country: CA (occurrence: CA)
  Receive Date: 20230504
  Receipt Date: 20250724
  Transmission Date: 20251021
  Serious: Yes (Death, Life-Threatening, Hospitalization, Disabling, Other)
  Sender: MYLAN
  Company Number: CA-MYLANLABS-2023M1043314

PATIENT
  Age: 43 Year
  Sex: Female
  Weight: 68 kg

DRUGS (1389)
  1. CELECOXIB [Suspect]
     Active Substance: CELECOXIB
     Indication: Rheumatoid arthritis
     Route: 065
  2. CELECOXIB [Suspect]
     Active Substance: CELECOXIB
  3. CELECOXIB [Suspect]
     Active Substance: CELECOXIB
  4. CELECOXIB [Suspect]
     Active Substance: CELECOXIB
     Route: 065
  5. CELECOXIB [Suspect]
     Active Substance: CELECOXIB
     Route: 065
  6. CELECOXIB [Suspect]
     Active Substance: CELECOXIB
     Route: 065
  7. CELECOXIB [Suspect]
     Active Substance: CELECOXIB
  8. CELECOXIB [Suspect]
     Active Substance: CELECOXIB
  9. CELECOXIB [Suspect]
     Active Substance: CELECOXIB
  10. CELECOXIB [Suspect]
     Active Substance: CELECOXIB
  11. CELECOXIB [Suspect]
     Active Substance: CELECOXIB
     Route: 065
  12. CELECOXIB [Suspect]
     Active Substance: CELECOXIB
     Route: 065
  13. CELECOXIB [Suspect]
     Active Substance: CELECOXIB
     Dosage: UNK, QD (1 EVERY 1 DAYS)
     Route: 065
  14. CELECOXIB [Suspect]
     Active Substance: CELECOXIB
     Dosage: UNK, QD (1 EVERY 1 DAYS)
     Route: 065
  15. CELECOXIB [Suspect]
     Active Substance: CELECOXIB
     Dosage: UNK, QD (1 EVERY 1 DAYS)
  16. CELECOXIB [Suspect]
     Active Substance: CELECOXIB
     Dosage: UNK, QD (1 EVERY 1 DAYS)
  17. CELECOXIB [Suspect]
     Active Substance: CELECOXIB
     Dosage: UNK, BID (2 EVERY 1 DAYS)
     Route: 065
  18. CELECOXIB [Suspect]
     Active Substance: CELECOXIB
     Dosage: UNK, BID (2 EVERY 1 DAYS)
  19. CELECOXIB [Suspect]
     Active Substance: CELECOXIB
     Dosage: UNK, BID (2 EVERY 1 DAYS)
  20. CELECOXIB [Suspect]
     Active Substance: CELECOXIB
     Dosage: UNK, BID (2 EVERY 1 DAYS)
     Route: 065
  21. CELEBREX [Suspect]
     Active Substance: CELECOXIB
     Indication: Rheumatoid arthritis
  22. CELEBREX [Suspect]
     Active Substance: CELECOXIB
     Route: 065
  23. CELEBREX [Suspect]
     Active Substance: CELECOXIB
     Route: 065
  24. CELEBREX [Suspect]
     Active Substance: CELECOXIB
  25. CELEBREX [Suspect]
     Active Substance: CELECOXIB
  26. CELEBREX [Suspect]
     Active Substance: CELECOXIB
     Route: 065
  27. CELEBREX [Suspect]
     Active Substance: CELECOXIB
  28. CELEBREX [Suspect]
     Active Substance: CELECOXIB
     Route: 065
  29. CELEBREX [Suspect]
     Active Substance: CELECOXIB
     Route: 065
  30. CELEBREX [Suspect]
     Active Substance: CELECOXIB
     Route: 065
  31. CELEBREX [Suspect]
     Active Substance: CELECOXIB
  32. CELEBREX [Suspect]
     Active Substance: CELECOXIB
  33. VITAMIN C [Suspect]
     Active Substance: ASCORBIC ACID
     Indication: Product used for unknown indication
  34. VITAMIN C [Suspect]
     Active Substance: ASCORBIC ACID
     Route: 065
  35. VITAMIN C [Suspect]
     Active Substance: ASCORBIC ACID
     Route: 065
  36. VITAMIN C [Suspect]
     Active Substance: ASCORBIC ACID
  37. PREGABALIN [Suspect]
     Active Substance: PREGABALIN
     Indication: Rheumatoid arthritis
  38. PREGABALIN [Suspect]
     Active Substance: PREGABALIN
     Route: 065
  39. PREGABALIN [Suspect]
     Active Substance: PREGABALIN
     Route: 065
  40. PREGABALIN [Suspect]
     Active Substance: PREGABALIN
  41. LYRICA [Suspect]
     Active Substance: PREGABALIN
     Indication: Fibromyalgia
  42. LYRICA [Suspect]
     Active Substance: PREGABALIN
     Route: 065
  43. LYRICA [Suspect]
     Active Substance: PREGABALIN
     Route: 065
  44. LYRICA [Suspect]
     Active Substance: PREGABALIN
  45. QUETIAPINE [Suspect]
     Active Substance: QUETIAPINE
     Indication: Product used for unknown indication
  46. QUETIAPINE [Suspect]
     Active Substance: QUETIAPINE
     Route: 065
  47. QUETIAPINE [Suspect]
     Active Substance: QUETIAPINE
     Route: 065
  48. QUETIAPINE [Suspect]
     Active Substance: QUETIAPINE
  49. ACETAMINOPHEN [Suspect]
     Active Substance: ACETAMINOPHEN
     Indication: Rheumatoid arthritis
  50. ACETAMINOPHEN [Suspect]
     Active Substance: ACETAMINOPHEN
  51. ACETAMINOPHEN [Suspect]
     Active Substance: ACETAMINOPHEN
     Route: 048
  52. ACETAMINOPHEN [Suspect]
     Active Substance: ACETAMINOPHEN
     Route: 048
  53. ACETAMINOPHEN [Suspect]
     Active Substance: ACETAMINOPHEN
  54. ACETAMINOPHEN [Suspect]
     Active Substance: ACETAMINOPHEN
  55. ACETAMINOPHEN [Suspect]
     Active Substance: ACETAMINOPHEN
     Route: 065
  56. ACETAMINOPHEN [Suspect]
     Active Substance: ACETAMINOPHEN
     Route: 065
  57. ALENDRONATE [Suspect]
     Active Substance: ALENDRONATE SODIUM
     Indication: Rheumatoid arthritis
  58. ALENDRONATE [Suspect]
     Active Substance: ALENDRONATE SODIUM
     Route: 048
  59. ALENDRONATE [Suspect]
     Active Substance: ALENDRONATE SODIUM
     Route: 048
  60. ALENDRONATE [Suspect]
     Active Substance: ALENDRONATE SODIUM
  61. TOFACITINIB [Suspect]
     Active Substance: TOFACITINIB
     Indication: Rheumatoid arthritis
  62. TOFACITINIB [Suspect]
     Active Substance: TOFACITINIB
  63. TOFACITINIB [Suspect]
     Active Substance: TOFACITINIB
     Route: 065
  64. TOFACITINIB [Suspect]
     Active Substance: TOFACITINIB
     Route: 065
  65. TOFACITINIB [Suspect]
     Active Substance: TOFACITINIB
     Dosage: 5 MILLIGRAM, BID (1 EVERY 12 HOURS0
  66. TOFACITINIB [Suspect]
     Active Substance: TOFACITINIB
     Dosage: 5 MILLIGRAM, BID (1 EVERY 12 HOURS0
  67. TOFACITINIB [Suspect]
     Active Substance: TOFACITINIB
     Dosage: 5 MILLIGRAM, BID (1 EVERY 12 HOURS0
     Route: 065
  68. TOFACITINIB [Suspect]
     Active Substance: TOFACITINIB
     Dosage: 5 MILLIGRAM, BID (1 EVERY 12 HOURS0
     Route: 065
  69. CALCIUM CARBONATE [Suspect]
     Active Substance: CALCIUM CARBONATE
     Indication: Product used for unknown indication
  70. CALCIUM CARBONATE [Suspect]
     Active Substance: CALCIUM CARBONATE
     Route: 065
  71. CALCIUM CARBONATE [Suspect]
     Active Substance: CALCIUM CARBONATE
     Route: 065
  72. CALCIUM CARBONATE [Suspect]
     Active Substance: CALCIUM CARBONATE
  73. MYCOPHENOLATE MOFETIL [Suspect]
     Active Substance: MYCOPHENOLATE MOFETIL
     Indication: Product used for unknown indication
  74. MYCOPHENOLATE MOFETIL [Suspect]
     Active Substance: MYCOPHENOLATE MOFETIL
     Route: 065
  75. MYCOPHENOLATE MOFETIL [Suspect]
     Active Substance: MYCOPHENOLATE MOFETIL
     Route: 065
  76. MYCOPHENOLATE MOFETIL [Suspect]
     Active Substance: MYCOPHENOLATE MOFETIL
  77. ADALIMUMAB [Suspect]
     Active Substance: ADALIMUMAB
     Indication: Rheumatoid arthritis
  78. ADALIMUMAB [Suspect]
     Active Substance: ADALIMUMAB
     Route: 065
  79. ADALIMUMAB [Suspect]
     Active Substance: ADALIMUMAB
     Route: 065
  80. ADALIMUMAB [Suspect]
     Active Substance: ADALIMUMAB
  81. PANTOPRAZOLE [Suspect]
     Active Substance: PANTOPRAZOLE
     Indication: Product used for unknown indication
  82. PANTOPRAZOLE [Suspect]
     Active Substance: PANTOPRAZOLE
     Route: 065
  83. PANTOPRAZOLE [Suspect]
     Active Substance: PANTOPRAZOLE
     Route: 065
  84. PANTOPRAZOLE [Suspect]
     Active Substance: PANTOPRAZOLE
  85. PANTOPRAZOLE [Suspect]
     Active Substance: PANTOPRAZOLE
  86. PANTOPRAZOLE [Suspect]
     Active Substance: PANTOPRAZOLE
     Route: 016
  87. PANTOPRAZOLE [Suspect]
     Active Substance: PANTOPRAZOLE
  88. PANTOPRAZOLE [Suspect]
     Active Substance: PANTOPRAZOLE
     Route: 016
  89. PANTOPRAZOLE [Suspect]
     Active Substance: PANTOPRAZOLE
     Route: 005
  90. PANTOPRAZOLE [Suspect]
     Active Substance: PANTOPRAZOLE
     Route: 005
  91. PANTOPRAZOLE [Suspect]
     Active Substance: PANTOPRAZOLE
  92. PANTOPRAZOLE [Suspect]
     Active Substance: PANTOPRAZOLE
  93. RAMIPRIL [Suspect]
     Active Substance: RAMIPRIL
     Indication: Product used for unknown indication
     Route: 065
  94. RAMIPRIL [Suspect]
     Active Substance: RAMIPRIL
  95. RAMIPRIL [Suspect]
     Active Substance: RAMIPRIL
  96. RAMIPRIL [Suspect]
     Active Substance: RAMIPRIL
     Route: 065
  97. RAMIPRIL [Suspect]
     Active Substance: RAMIPRIL
     Route: 016
  98. RAMIPRIL [Suspect]
     Active Substance: RAMIPRIL
  99. RAMIPRIL [Suspect]
     Active Substance: RAMIPRIL
  100. RAMIPRIL [Suspect]
     Active Substance: RAMIPRIL
     Route: 016
  101. ALENDRONATE [Suspect]
     Active Substance: ALENDRONATE SODIUM
     Indication: Rheumatoid arthritis
  102. ALENDRONATE [Suspect]
     Active Substance: ALENDRONATE SODIUM
     Route: 016
  103. ALENDRONATE [Suspect]
     Active Substance: ALENDRONATE SODIUM
     Route: 016
  104. ALENDRONATE [Suspect]
     Active Substance: ALENDRONATE SODIUM
  105. ALENDRONATE [Suspect]
     Active Substance: ALENDRONATE SODIUM
     Indication: Rheumatoid arthritis
  106. ALENDRONATE [Suspect]
     Active Substance: ALENDRONATE SODIUM
     Route: 058
  107. ALENDRONATE [Suspect]
     Active Substance: ALENDRONATE SODIUM
     Route: 058
  108. ALENDRONATE [Suspect]
     Active Substance: ALENDRONATE SODIUM
  109. ACTEMRA [Suspect]
     Active Substance: TOCILIZUMAB
     Indication: Rheumatoid arthritis
     Route: 058
  110. ACTEMRA [Suspect]
     Active Substance: TOCILIZUMAB
  111. ACTEMRA [Suspect]
     Active Substance: TOCILIZUMAB
  112. ACTEMRA [Suspect]
     Active Substance: TOCILIZUMAB
     Route: 058
  113. ACTEMRA [Suspect]
     Active Substance: TOCILIZUMAB
     Route: 058
  114. ACTEMRA [Suspect]
     Active Substance: TOCILIZUMAB
  115. ACTEMRA [Suspect]
     Active Substance: TOCILIZUMAB
  116. ACTEMRA [Suspect]
     Active Substance: TOCILIZUMAB
     Route: 058
  117. ACTEMRA [Suspect]
     Active Substance: TOCILIZUMAB
     Route: 058
  118. ACTEMRA [Suspect]
     Active Substance: TOCILIZUMAB
     Route: 058
  119. ACTEMRA [Suspect]
     Active Substance: TOCILIZUMAB
  120. ACTEMRA [Suspect]
     Active Substance: TOCILIZUMAB
  121. ACTEMRA [Suspect]
     Active Substance: TOCILIZUMAB
     Indication: Rheumatoid arthritis
  122. ACTEMRA [Suspect]
     Active Substance: TOCILIZUMAB
     Route: 042
  123. ACTEMRA [Suspect]
     Active Substance: TOCILIZUMAB
     Route: 042
  124. ACTEMRA [Suspect]
     Active Substance: TOCILIZUMAB
  125. ACTEMRA [Suspect]
     Active Substance: TOCILIZUMAB
     Indication: Rheumatoid arthritis
  126. ACTEMRA [Suspect]
     Active Substance: TOCILIZUMAB
     Route: 061
  127. ACTEMRA [Suspect]
     Active Substance: TOCILIZUMAB
     Route: 061
  128. ACTEMRA [Suspect]
     Active Substance: TOCILIZUMAB
  129. PREDNISONE [Suspect]
     Active Substance: PREDNISONE
     Indication: Rheumatoid arthritis
     Route: 065
  130. PREDNISONE [Suspect]
     Active Substance: PREDNISONE
  131. PREDNISONE [Suspect]
     Active Substance: PREDNISONE
  132. PREDNISONE [Suspect]
     Active Substance: PREDNISONE
     Route: 065
  133. PREDNISONE [Suspect]
     Active Substance: PREDNISONE
     Route: 065
  134. PREDNISONE [Suspect]
     Active Substance: PREDNISONE
     Route: 065
  135. PREDNISONE [Suspect]
     Active Substance: PREDNISONE
  136. PREDNISONE [Suspect]
     Active Substance: PREDNISONE
  137. PREDNISONE [Suspect]
     Active Substance: PREDNISONE
     Route: 065
  138. PREDNISONE [Suspect]
     Active Substance: PREDNISONE
     Route: 065
  139. PREDNISONE [Suspect]
     Active Substance: PREDNISONE
  140. PREDNISONE [Suspect]
     Active Substance: PREDNISONE
  141. PREDNISONE [Suspect]
     Active Substance: PREDNISONE
     Route: 065
  142. PREDNISONE [Suspect]
     Active Substance: PREDNISONE
  143. PREDNISONE [Suspect]
     Active Substance: PREDNISONE
  144. PREDNISONE [Suspect]
     Active Substance: PREDNISONE
     Route: 065
  145. ARAVA [Suspect]
     Active Substance: LEFLUNOMIDE
     Indication: Rheumatoid arthritis
  146. ARAVA [Suspect]
     Active Substance: LEFLUNOMIDE
  147. ARAVA [Suspect]
     Active Substance: LEFLUNOMIDE
     Route: 065
  148. ARAVA [Suspect]
     Active Substance: LEFLUNOMIDE
     Route: 065
  149. ARAVA [Suspect]
     Active Substance: LEFLUNOMIDE
  150. ARAVA [Suspect]
     Active Substance: LEFLUNOMIDE
  151. ARAVA [Suspect]
     Active Substance: LEFLUNOMIDE
     Route: 048
  152. ARAVA [Suspect]
     Active Substance: LEFLUNOMIDE
     Route: 048
  153. ARAVA [Suspect]
     Active Substance: LEFLUNOMIDE
     Indication: Rheumatoid arthritis
  154. ARAVA [Suspect]
     Active Substance: LEFLUNOMIDE
     Route: 048
  155. ARAVA [Suspect]
     Active Substance: LEFLUNOMIDE
     Route: 048
  156. ARAVA [Suspect]
     Active Substance: LEFLUNOMIDE
  157. CETIRIZINE HYDROCHLORIDE [Suspect]
     Active Substance: CETIRIZINE HYDROCHLORIDE
     Indication: Rheumatoid arthritis
  158. CETIRIZINE HYDROCHLORIDE [Suspect]
     Active Substance: CETIRIZINE HYDROCHLORIDE
  159. CETIRIZINE HYDROCHLORIDE [Suspect]
     Active Substance: CETIRIZINE HYDROCHLORIDE
     Route: 065
  160. CETIRIZINE HYDROCHLORIDE [Suspect]
     Active Substance: CETIRIZINE HYDROCHLORIDE
     Route: 065
  161. CETIRIZINE HYDROCHLORIDE [Suspect]
     Active Substance: CETIRIZINE HYDROCHLORIDE
  162. CETIRIZINE HYDROCHLORIDE [Suspect]
     Active Substance: CETIRIZINE HYDROCHLORIDE
  163. CETIRIZINE HYDROCHLORIDE [Suspect]
     Active Substance: CETIRIZINE HYDROCHLORIDE
     Route: 048
  164. CETIRIZINE HYDROCHLORIDE [Suspect]
     Active Substance: CETIRIZINE HYDROCHLORIDE
     Route: 048
  165. CETIRIZINE HYDROCHLORIDE [Suspect]
     Active Substance: CETIRIZINE HYDROCHLORIDE
     Indication: Rheumatoid arthritis
  166. CETIRIZINE HYDROCHLORIDE [Suspect]
     Active Substance: CETIRIZINE HYDROCHLORIDE
     Route: 048
  167. CETIRIZINE HYDROCHLORIDE [Suspect]
     Active Substance: CETIRIZINE HYDROCHLORIDE
     Route: 048
  168. CETIRIZINE HYDROCHLORIDE [Suspect]
     Active Substance: CETIRIZINE HYDROCHLORIDE
  169. CETIRIZINE HYDROCHLORIDE [Suspect]
     Active Substance: CETIRIZINE HYDROCHLORIDE
     Dosage: 10 MILLIGRAM, QD
  170. CETIRIZINE HYDROCHLORIDE [Suspect]
     Active Substance: CETIRIZINE HYDROCHLORIDE
     Dosage: 10 MILLIGRAM, QD
     Route: 048
  171. CETIRIZINE HYDROCHLORIDE [Suspect]
     Active Substance: CETIRIZINE HYDROCHLORIDE
     Dosage: 10 MILLIGRAM, QD
  172. CETIRIZINE HYDROCHLORIDE [Suspect]
     Active Substance: CETIRIZINE HYDROCHLORIDE
     Dosage: 10 MILLIGRAM, QD
     Route: 048
  173. CETIRIZINE HYDROCHLORIDE [Suspect]
     Active Substance: CETIRIZINE HYDROCHLORIDE
     Route: 065
  174. CETIRIZINE HYDROCHLORIDE [Suspect]
     Active Substance: CETIRIZINE HYDROCHLORIDE
     Route: 065
  175. CETIRIZINE HYDROCHLORIDE [Suspect]
     Active Substance: CETIRIZINE HYDROCHLORIDE
  176. CETIRIZINE HYDROCHLORIDE [Suspect]
     Active Substance: CETIRIZINE HYDROCHLORIDE
  177. CETIRIZINE HYDROCHLORIDE [Suspect]
     Active Substance: CETIRIZINE HYDROCHLORIDE
     Indication: Rheumatoid arthritis
  178. CETIRIZINE HYDROCHLORIDE [Suspect]
     Active Substance: CETIRIZINE HYDROCHLORIDE
     Route: 065
  179. CETIRIZINE HYDROCHLORIDE [Suspect]
     Active Substance: CETIRIZINE HYDROCHLORIDE
     Route: 065
  180. CETIRIZINE HYDROCHLORIDE [Suspect]
     Active Substance: CETIRIZINE HYDROCHLORIDE
  181. CIMZIA [Suspect]
     Active Substance: CERTOLIZUMAB PEGOL
     Indication: Rheumatoid arthritis
     Route: 058
  182. CIMZIA [Suspect]
     Active Substance: CERTOLIZUMAB PEGOL
     Indication: Psoriasis
  183. CIMZIA [Suspect]
     Active Substance: CERTOLIZUMAB PEGOL
     Route: 058
  184. CIMZIA [Suspect]
     Active Substance: CERTOLIZUMAB PEGOL
  185. CIMZIA [Suspect]
     Active Substance: CERTOLIZUMAB PEGOL
  186. CIMZIA [Suspect]
     Active Substance: CERTOLIZUMAB PEGOL
  187. CIMZIA [Suspect]
     Active Substance: CERTOLIZUMAB PEGOL
     Route: 058
  188. CIMZIA [Suspect]
     Active Substance: CERTOLIZUMAB PEGOL
     Route: 058
  189. CIMZIA [Suspect]
     Active Substance: CERTOLIZUMAB PEGOL
  190. CIMZIA [Suspect]
     Active Substance: CERTOLIZUMAB PEGOL
     Route: 065
  191. CIMZIA [Suspect]
     Active Substance: CERTOLIZUMAB PEGOL
     Route: 065
  192. CIMZIA [Suspect]
     Active Substance: CERTOLIZUMAB PEGOL
  193. CIMZIA [Suspect]
     Active Substance: CERTOLIZUMAB PEGOL
     Route: 058
  194. CIMZIA [Suspect]
     Active Substance: CERTOLIZUMAB PEGOL
     Route: 058
  195. CIMZIA [Suspect]
     Active Substance: CERTOLIZUMAB PEGOL
  196. CIMZIA [Suspect]
     Active Substance: CERTOLIZUMAB PEGOL
  197. CIMZIA [Suspect]
     Active Substance: CERTOLIZUMAB PEGOL
     Route: 057
  198. CIMZIA [Suspect]
     Active Substance: CERTOLIZUMAB PEGOL
     Route: 057
  199. CIMZIA [Suspect]
     Active Substance: CERTOLIZUMAB PEGOL
  200. CIMZIA [Suspect]
     Active Substance: CERTOLIZUMAB PEGOL
  201. CIMZIA [Suspect]
     Active Substance: CERTOLIZUMAB PEGOL
     Route: 065
  202. CIMZIA [Suspect]
     Active Substance: CERTOLIZUMAB PEGOL
  203. CIMZIA [Suspect]
     Active Substance: CERTOLIZUMAB PEGOL
  204. CIMZIA [Suspect]
     Active Substance: CERTOLIZUMAB PEGOL
     Route: 065
  205. CORTISONE ACETATE [Suspect]
     Active Substance: CORTISONE ACETATE
     Indication: Rheumatoid arthritis
  206. CORTISONE ACETATE [Suspect]
     Active Substance: CORTISONE ACETATE
     Route: 048
  207. CORTISONE ACETATE [Suspect]
     Active Substance: CORTISONE ACETATE
     Route: 048
  208. CORTISONE ACETATE [Suspect]
     Active Substance: CORTISONE ACETATE
  209. CORTISONE ACETATE [Suspect]
     Active Substance: CORTISONE ACETATE
     Indication: Rheumatoid arthritis
  210. CORTISONE ACETATE [Suspect]
     Active Substance: CORTISONE ACETATE
     Route: 061
  211. CORTISONE ACETATE [Suspect]
     Active Substance: CORTISONE ACETATE
     Route: 061
  212. CORTISONE ACETATE [Suspect]
     Active Substance: CORTISONE ACETATE
  213. CORTISONE ACETATE [Suspect]
     Active Substance: CORTISONE ACETATE
     Indication: Rheumatoid arthritis
     Route: 061
  214. CORTISONE ACETATE [Suspect]
     Active Substance: CORTISONE ACETATE
  215. CORTISONE ACETATE [Suspect]
     Active Substance: CORTISONE ACETATE
  216. CORTISONE ACETATE [Suspect]
     Active Substance: CORTISONE ACETATE
     Route: 061
  217. CORTISONE ACETATE [Suspect]
     Active Substance: CORTISONE ACETATE
     Route: 065
  218. CORTISONE ACETATE [Suspect]
     Active Substance: CORTISONE ACETATE
  219. CORTISONE ACETATE [Suspect]
     Active Substance: CORTISONE ACETATE
  220. CORTISONE ACETATE [Suspect]
     Active Substance: CORTISONE ACETATE
     Route: 065
  221. COSENTYX [Suspect]
     Active Substance: SECUKINUMAB
     Indication: Psoriatic arthropathy
     Route: 065
  222. COSENTYX [Suspect]
     Active Substance: SECUKINUMAB
  223. COSENTYX [Suspect]
     Active Substance: SECUKINUMAB
  224. COSENTYX [Suspect]
     Active Substance: SECUKINUMAB
     Route: 065
  225. COSENTYX [Suspect]
     Active Substance: SECUKINUMAB
     Route: 042
  226. COSENTYX [Suspect]
     Active Substance: SECUKINUMAB
  227. COSENTYX [Suspect]
     Active Substance: SECUKINUMAB
  228. COSENTYX [Suspect]
     Active Substance: SECUKINUMAB
     Route: 042
  229. DESOXIMETASONE [Suspect]
     Active Substance: DESOXIMETASONE
     Indication: Rheumatoid arthritis
  230. DESOXIMETASONE [Suspect]
     Active Substance: DESOXIMETASONE
  231. DESOXIMETASONE [Suspect]
     Active Substance: DESOXIMETASONE
     Route: 003
  232. DESOXIMETASONE [Suspect]
     Active Substance: DESOXIMETASONE
     Route: 003
  233. DESOXIMETASONE [Suspect]
     Active Substance: DESOXIMETASONE
  234. DESOXIMETASONE [Suspect]
     Active Substance: DESOXIMETASONE
  235. DESOXIMETASONE [Suspect]
     Active Substance: DESOXIMETASONE
     Route: 065
  236. DESOXIMETASONE [Suspect]
     Active Substance: DESOXIMETASONE
     Route: 065
  237. DICLOFENAC DIETHYLAMINE [Suspect]
     Active Substance: DICLOFENAC DIETHYLAMINE
     Indication: Product used for unknown indication
  238. DICLOFENAC DIETHYLAMINE [Suspect]
     Active Substance: DICLOFENAC DIETHYLAMINE
     Route: 065
  239. DICLOFENAC DIETHYLAMINE [Suspect]
     Active Substance: DICLOFENAC DIETHYLAMINE
     Route: 065
  240. DICLOFENAC DIETHYLAMINE [Suspect]
     Active Substance: DICLOFENAC DIETHYLAMINE
  241. DICLOFENAC SODIUM [Suspect]
     Active Substance: DICLOFENAC SODIUM
     Indication: Product used for unknown indication
  242. DICLOFENAC SODIUM [Suspect]
     Active Substance: DICLOFENAC SODIUM
     Route: 065
  243. DICLOFENAC SODIUM [Suspect]
     Active Substance: DICLOFENAC SODIUM
     Route: 065
  244. DICLOFENAC SODIUM [Suspect]
     Active Substance: DICLOFENAC SODIUM
  245. ENBREL [Suspect]
     Active Substance: ETANERCEPT
     Indication: Rheumatoid arthritis
     Dosage: 50 MILLIGRAM, QW (1 EVERY 1 WEEKS)
  246. ENBREL [Suspect]
     Active Substance: ETANERCEPT
     Indication: Psoriatic arthropathy
     Dosage: 50 MILLIGRAM, QW (1 EVERY 1 WEEKS)
     Route: 058
  247. ENBREL [Suspect]
     Active Substance: ETANERCEPT
     Dosage: 50 MILLIGRAM, QW (1 EVERY 1 WEEKS)
     Route: 058
  248. ENBREL [Suspect]
     Active Substance: ETANERCEPT
     Dosage: 50 MILLIGRAM, QW (1 EVERY 1 WEEKS)
  249. FOLIC ACID [Suspect]
     Active Substance: FOLIC ACID
     Indication: Rheumatoid arthritis
  250. FOLIC ACID [Suspect]
     Active Substance: FOLIC ACID
  251. FOLIC ACID [Suspect]
     Active Substance: FOLIC ACID
     Route: 048
  252. FOLIC ACID [Suspect]
     Active Substance: FOLIC ACID
     Route: 048
  253. FOLIC ACID [Suspect]
     Active Substance: FOLIC ACID
  254. FOLIC ACID [Suspect]
     Active Substance: FOLIC ACID
  255. FOLIC ACID [Suspect]
     Active Substance: FOLIC ACID
     Route: 048
  256. FOLIC ACID [Suspect]
     Active Substance: FOLIC ACID
     Route: 048
  257. FOLIC ACID [Suspect]
     Active Substance: FOLIC ACID
  258. FOLIC ACID [Suspect]
     Active Substance: FOLIC ACID
     Route: 058
  259. FOLIC ACID [Suspect]
     Active Substance: FOLIC ACID
  260. FOLIC ACID [Suspect]
     Active Substance: FOLIC ACID
     Route: 058
  261. FOLIC ACID [Suspect]
     Active Substance: FOLIC ACID
     Indication: Rheumatoid arthritis
     Route: 048
  262. FOLIC ACID [Suspect]
     Active Substance: FOLIC ACID
  263. FOLIC ACID [Suspect]
     Active Substance: FOLIC ACID
  264. FOLIC ACID [Suspect]
     Active Substance: FOLIC ACID
     Route: 048
  265. FOLIC ACID [Suspect]
     Active Substance: FOLIC ACID
     Route: 065
  266. FOLIC ACID [Suspect]
     Active Substance: FOLIC ACID
  267. FOLIC ACID [Suspect]
     Active Substance: FOLIC ACID
  268. FOLIC ACID [Suspect]
     Active Substance: FOLIC ACID
     Route: 065
  269. GOLIMUMAB [Suspect]
     Active Substance: GOLIMUMAB
     Indication: Rheumatoid arthritis
  270. GOLIMUMAB [Suspect]
     Active Substance: GOLIMUMAB
     Indication: Prostatic specific antigen
  271. GOLIMUMAB [Suspect]
     Active Substance: GOLIMUMAB
     Route: 065
  272. GOLIMUMAB [Suspect]
     Active Substance: GOLIMUMAB
     Route: 065
  273. GOLIMUMAB [Suspect]
     Active Substance: GOLIMUMAB
  274. GOLIMUMAB [Suspect]
     Active Substance: GOLIMUMAB
  275. GOLIMUMAB [Suspect]
     Active Substance: GOLIMUMAB
     Route: 058
  276. GOLIMUMAB [Suspect]
     Active Substance: GOLIMUMAB
     Route: 058
  277. GOLIMUMAB [Suspect]
     Active Substance: GOLIMUMAB
     Indication: Rheumatoid arthritis
  278. GOLIMUMAB [Suspect]
     Active Substance: GOLIMUMAB
     Indication: Prostatic specific antigen
     Route: 065
  279. GOLIMUMAB [Suspect]
     Active Substance: GOLIMUMAB
     Route: 065
  280. GOLIMUMAB [Suspect]
     Active Substance: GOLIMUMAB
  281. HUMIRA [Suspect]
     Active Substance: ADALIMUMAB
     Indication: Rheumatoid arthritis
     Route: 058
  282. HUMIRA [Suspect]
     Active Substance: ADALIMUMAB
     Indication: Psoriatic arthropathy
  283. HUMIRA [Suspect]
     Active Substance: ADALIMUMAB
  284. HUMIRA [Suspect]
     Active Substance: ADALIMUMAB
     Route: 058
  285. HUMIRA [Suspect]
     Active Substance: ADALIMUMAB
     Route: 058
  286. HUMIRA [Suspect]
     Active Substance: ADALIMUMAB
  287. HUMIRA [Suspect]
     Active Substance: ADALIMUMAB
  288. HUMIRA [Suspect]
     Active Substance: ADALIMUMAB
     Route: 058
  289. HUMIRA [Suspect]
     Active Substance: ADALIMUMAB
     Route: 065
  290. HUMIRA [Suspect]
     Active Substance: ADALIMUMAB
     Route: 065
  291. HUMIRA [Suspect]
     Active Substance: ADALIMUMAB
  292. HUMIRA [Suspect]
     Active Substance: ADALIMUMAB
  293. HUMIRA [Suspect]
     Active Substance: ADALIMUMAB
     Indication: Rheumatoid arthritis
  294. HUMIRA [Suspect]
     Active Substance: ADALIMUMAB
     Indication: Psoriatic arthropathy
     Route: 058
  295. HUMIRA [Suspect]
     Active Substance: ADALIMUMAB
     Route: 058
  296. HUMIRA [Suspect]
     Active Substance: ADALIMUMAB
  297. HUMIRA [Suspect]
     Active Substance: ADALIMUMAB
  298. HUMIRA [Suspect]
     Active Substance: ADALIMUMAB
     Route: 057
  299. HUMIRA [Suspect]
     Active Substance: ADALIMUMAB
  300. HUMIRA [Suspect]
     Active Substance: ADALIMUMAB
     Route: 057
  301. HUMIRA [Suspect]
     Active Substance: ADALIMUMAB
     Route: 058
  302. HUMIRA [Suspect]
     Active Substance: ADALIMUMAB
     Route: 058
  303. HUMIRA [Suspect]
     Active Substance: ADALIMUMAB
  304. HUMIRA [Suspect]
     Active Substance: ADALIMUMAB
  305. HYDROCORTISONE [Suspect]
     Active Substance: HYDROCORTISONE
     Indication: Rheumatoid arthritis
     Route: 058
  306. HYDROCORTISONE [Suspect]
     Active Substance: HYDROCORTISONE
     Route: 058
  307. HYDROCORTISONE [Suspect]
     Active Substance: HYDROCORTISONE
  308. HYDROCORTISONE [Suspect]
     Active Substance: HYDROCORTISONE
  309. HYDROCORTISONE [Suspect]
     Active Substance: HYDROCORTISONE
     Route: 065
  310. HYDROCORTISONE [Suspect]
     Active Substance: HYDROCORTISONE
  311. HYDROCORTISONE [Suspect]
     Active Substance: HYDROCORTISONE
  312. HYDROCORTISONE [Suspect]
     Active Substance: HYDROCORTISONE
     Route: 065
  313. HYDROCORTISONE [Suspect]
     Active Substance: HYDROCORTISONE
     Route: 048
  314. HYDROCORTISONE [Suspect]
     Active Substance: HYDROCORTISONE
     Route: 048
  315. HYDROCORTISONE [Suspect]
     Active Substance: HYDROCORTISONE
  316. HYDROCORTISONE [Suspect]
     Active Substance: HYDROCORTISONE
  317. HYDROCORTISONE [Suspect]
     Active Substance: HYDROCORTISONE
     Route: 048
  318. HYDROCORTISONE [Suspect]
     Active Substance: HYDROCORTISONE
  319. HYDROCORTISONE [Suspect]
     Active Substance: HYDROCORTISONE
  320. HYDROCORTISONE [Suspect]
     Active Substance: HYDROCORTISONE
     Route: 048
  321. HYDROXYCHLOROQUINE [Suspect]
     Active Substance: HYDROXYCHLOROQUINE
     Indication: Rheumatoid arthritis
     Dosage: 400 MILLIGRAM, QD (1 EVERY 1 DAYS)
     Route: 065
  322. HYDROXYCHLOROQUINE [Suspect]
     Active Substance: HYDROXYCHLOROQUINE
     Indication: Systemic lupus erythematosus
     Dosage: 400 MILLIGRAM, QD (1 EVERY 1 DAYS)
     Route: 065
  323. HYDROXYCHLOROQUINE [Suspect]
     Active Substance: HYDROXYCHLOROQUINE
     Dosage: 400 MILLIGRAM, QD (1 EVERY 1 DAYS)
  324. HYDROXYCHLOROQUINE [Suspect]
     Active Substance: HYDROXYCHLOROQUINE
     Dosage: 400 MILLIGRAM, QD (1 EVERY 1 DAYS)
  325. HYDROXYCHLOROQUINE [Suspect]
     Active Substance: HYDROXYCHLOROQUINE
     Dosage: 400 MILLIGRAM, QD (1 EVERY 24 HOURS)
     Route: 048
  326. HYDROXYCHLOROQUINE [Suspect]
     Active Substance: HYDROXYCHLOROQUINE
     Dosage: 400 MILLIGRAM, QD (1 EVERY 24 HOURS)
     Route: 048
  327. HYDROXYCHLOROQUINE [Suspect]
     Active Substance: HYDROXYCHLOROQUINE
     Dosage: 400 MILLIGRAM, QD (1 EVERY 24 HOURS)
  328. HYDROXYCHLOROQUINE [Suspect]
     Active Substance: HYDROXYCHLOROQUINE
     Dosage: 400 MILLIGRAM, QD (1 EVERY 24 HOURS)
  329. HYDROXYCHLOROQUINE [Suspect]
     Active Substance: HYDROXYCHLOROQUINE
     Route: 048
  330. HYDROXYCHLOROQUINE [Suspect]
     Active Substance: HYDROXYCHLOROQUINE
     Route: 048
  331. HYDROXYCHLOROQUINE [Suspect]
     Active Substance: HYDROXYCHLOROQUINE
  332. HYDROXYCHLOROQUINE [Suspect]
     Active Substance: HYDROXYCHLOROQUINE
  333. HYDROXYCHLOROQUINE [Suspect]
     Active Substance: HYDROXYCHLOROQUINE
     Route: 065
  334. HYDROXYCHLOROQUINE [Suspect]
     Active Substance: HYDROXYCHLOROQUINE
     Route: 065
  335. HYDROXYCHLOROQUINE [Suspect]
     Active Substance: HYDROXYCHLOROQUINE
  336. HYDROXYCHLOROQUINE [Suspect]
     Active Substance: HYDROXYCHLOROQUINE
  337. HYDROXYCHLOROQUINE [Suspect]
     Active Substance: HYDROXYCHLOROQUINE
     Dosage: 200 MILLIGRAM, BID (2 EVERY 1 DAYS)
  338. HYDROXYCHLOROQUINE [Suspect]
     Active Substance: HYDROXYCHLOROQUINE
     Dosage: 200 MILLIGRAM, BID (2 EVERY 1 DAYS)
  339. HYDROXYCHLOROQUINE [Suspect]
     Active Substance: HYDROXYCHLOROQUINE
     Dosage: 200 MILLIGRAM, BID (2 EVERY 1 DAYS)
     Route: 065
  340. HYDROXYCHLOROQUINE [Suspect]
     Active Substance: HYDROXYCHLOROQUINE
     Dosage: 200 MILLIGRAM, BID (2 EVERY 1 DAYS)
     Route: 065
  341. HYDROXYCHLOROQUINE SULFATE [Suspect]
     Active Substance: HYDROXYCHLOROQUINE SULFATE
     Indication: Rheumatoid arthritis
     Dosage: 400 MILLIGRAM, QD (1 EVERY 1 DAYS)
  342. HYDROXYCHLOROQUINE SULFATE [Suspect]
     Active Substance: HYDROXYCHLOROQUINE SULFATE
     Dosage: 400 MILLIGRAM, QD (1 EVERY 1 DAYS)
     Route: 048
  343. HYDROXYCHLOROQUINE SULFATE [Suspect]
     Active Substance: HYDROXYCHLOROQUINE SULFATE
     Dosage: 400 MILLIGRAM, QD (1 EVERY 1 DAYS)
     Route: 048
  344. HYDROXYCHLOROQUINE SULFATE [Suspect]
     Active Substance: HYDROXYCHLOROQUINE SULFATE
     Dosage: 400 MILLIGRAM, QD (1 EVERY 1 DAYS)
  345. HYDROXYCHLOROQUINE SULFATE [Suspect]
     Active Substance: HYDROXYCHLOROQUINE SULFATE
     Dosage: 1 DOSAGE FORM, QD (1 EVERY 24 HOURS)
  346. HYDROXYCHLOROQUINE SULFATE [Suspect]
     Active Substance: HYDROXYCHLOROQUINE SULFATE
     Dosage: 1 DOSAGE FORM, QD (1 EVERY 24 HOURS)
     Route: 058
  347. HYDROXYCHLOROQUINE SULFATE [Suspect]
     Active Substance: HYDROXYCHLOROQUINE SULFATE
     Dosage: 1 DOSAGE FORM, QD (1 EVERY 24 HOURS)
  348. HYDROXYCHLOROQUINE SULFATE [Suspect]
     Active Substance: HYDROXYCHLOROQUINE SULFATE
     Dosage: 1 DOSAGE FORM, QD (1 EVERY 24 HOURS)
     Route: 058
  349. HYDROXYCHLOROQUINE SULFATE [Suspect]
     Active Substance: HYDROXYCHLOROQUINE SULFATE
     Route: 065
  350. HYDROXYCHLOROQUINE SULFATE [Suspect]
     Active Substance: HYDROXYCHLOROQUINE SULFATE
     Route: 065
  351. HYDROXYCHLOROQUINE SULFATE [Suspect]
     Active Substance: HYDROXYCHLOROQUINE SULFATE
  352. HYDROXYCHLOROQUINE SULFATE [Suspect]
     Active Substance: HYDROXYCHLOROQUINE SULFATE
  353. KEVZARA [Suspect]
     Active Substance: SARILUMAB
     Indication: Rheumatoid arthritis
  354. KEVZARA [Suspect]
     Active Substance: SARILUMAB
     Route: 065
  355. KEVZARA [Suspect]
     Active Substance: SARILUMAB
     Route: 065
  356. KEVZARA [Suspect]
     Active Substance: SARILUMAB
  357. LEFLUNOMIDE [Suspect]
     Active Substance: LEFLUNOMIDE
     Indication: Rheumatoid arthritis
     Route: 048
  358. LEFLUNOMIDE [Suspect]
     Active Substance: LEFLUNOMIDE
  359. LEFLUNOMIDE [Suspect]
     Active Substance: LEFLUNOMIDE
  360. LEFLUNOMIDE [Suspect]
     Active Substance: LEFLUNOMIDE
     Route: 048
  361. LEFLUNOMIDE [Suspect]
     Active Substance: LEFLUNOMIDE
     Route: 048
  362. LEFLUNOMIDE [Suspect]
     Active Substance: LEFLUNOMIDE
  363. LEFLUNOMIDE [Suspect]
     Active Substance: LEFLUNOMIDE
  364. LEFLUNOMIDE [Suspect]
     Active Substance: LEFLUNOMIDE
     Route: 048
  365. METHOTREXATE [Suspect]
     Active Substance: METHOTREXATE
     Indication: Rheumatoid arthritis
     Dosage: 25 MILLIGRAM, QW (1 EVERY 1 WEEKS)
     Route: 013
  366. METHOTREXATE [Suspect]
     Active Substance: METHOTREXATE
     Dosage: 25 MILLIGRAM, QW (1 EVERY 1 WEEKS)
  367. METHOTREXATE [Suspect]
     Active Substance: METHOTREXATE
     Dosage: 25 MILLIGRAM, QW (1 EVERY 1 WEEKS)
  368. METHOTREXATE [Suspect]
     Active Substance: METHOTREXATE
     Dosage: 25 MILLIGRAM, QW (1 EVERY 1 WEEKS)
     Route: 013
  369. METHOTREXATE [Suspect]
     Active Substance: METHOTREXATE
     Dosage: 25 MILLIGRAM, QW (1 EVERY 1 WEEKS)
     Route: 048
  370. METHOTREXATE [Suspect]
     Active Substance: METHOTREXATE
     Dosage: 25 MILLIGRAM, QW (1 EVERY 1 WEEKS)
  371. METHOTREXATE [Suspect]
     Active Substance: METHOTREXATE
     Dosage: 25 MILLIGRAM, QW (1 EVERY 1 WEEKS)
  372. METHOTREXATE [Suspect]
     Active Substance: METHOTREXATE
     Dosage: 25 MILLIGRAM, QW (1 EVERY 1 WEEKS)
     Route: 048
  373. METHOTREXATE [Suspect]
     Active Substance: METHOTREXATE
     Dosage: 1 GRAM, BID (1 EVERY 12 HOURS)
  374. METHOTREXATE [Suspect]
     Active Substance: METHOTREXATE
     Dosage: 1 GRAM, BID (1 EVERY 12 HOURS)
  375. METHOTREXATE [Suspect]
     Active Substance: METHOTREXATE
     Dosage: 1 GRAM, BID (1 EVERY 12 HOURS)
     Route: 048
  376. METHOTREXATE [Suspect]
     Active Substance: METHOTREXATE
     Dosage: 1 GRAM, BID (1 EVERY 12 HOURS)
     Route: 048
  377. METHOTREXATE [Suspect]
     Active Substance: METHOTREXATE
     Dosage: 25 MILLIGRAM, BID (1 EVERY 12 HOURS)
  378. METHOTREXATE [Suspect]
     Active Substance: METHOTREXATE
     Dosage: 25 MILLIGRAM, BID (1 EVERY 12 HOURS)
  379. METHOTREXATE [Suspect]
     Active Substance: METHOTREXATE
     Dosage: 25 MILLIGRAM, BID (1 EVERY 12 HOURS)
     Route: 048
  380. METHOTREXATE [Suspect]
     Active Substance: METHOTREXATE
     Dosage: 25 MILLIGRAM, BID (1 EVERY 12 HOURS)
     Route: 048
  381. METHOTREXATE [Suspect]
     Active Substance: METHOTREXATE
     Indication: Rheumatoid arthritis
  382. METHOTREXATE [Suspect]
     Active Substance: METHOTREXATE
  383. METHOTREXATE [Suspect]
     Active Substance: METHOTREXATE
     Route: 048
  384. METHOTREXATE [Suspect]
     Active Substance: METHOTREXATE
     Route: 048
  385. METHOTREXATE [Suspect]
     Active Substance: METHOTREXATE
     Dosage: 20 MILLIGRAM, QD (1 EVERY 1 DAYS)
     Route: 048
  386. METHOTREXATE [Suspect]
     Active Substance: METHOTREXATE
     Dosage: 20 MILLIGRAM, QD (1 EVERY 1 DAYS)
     Route: 048
  387. METHOTREXATE [Suspect]
     Active Substance: METHOTREXATE
     Dosage: 20 MILLIGRAM, QD (1 EVERY 1 DAYS)
  388. METHOTREXATE [Suspect]
     Active Substance: METHOTREXATE
     Dosage: 20 MILLIGRAM, QD (1 EVERY 1 DAYS)
  389. METHOTREXATE [Suspect]
     Active Substance: METHOTREXATE
     Dosage: 20 MILLIGRAM, QD (1 EVERY 1 DAYS)
     Route: 065
  390. METHOTREXATE [Suspect]
     Active Substance: METHOTREXATE
     Dosage: 20 MILLIGRAM, QD (1 EVERY 1 DAYS)
     Route: 065
  391. METHOTREXATE [Suspect]
     Active Substance: METHOTREXATE
     Dosage: 20 MILLIGRAM, QD (1 EVERY 1 DAYS)
  392. METHOTREXATE [Suspect]
     Active Substance: METHOTREXATE
     Dosage: 20 MILLIGRAM, QD (1 EVERY 1 DAYS)
  393. METHOTREXATE [Suspect]
     Active Substance: METHOTREXATE
     Dosage: 20 MILLIGRAM, QW (1 EVERY 1 WEEKS)
  394. METHOTREXATE [Suspect]
     Active Substance: METHOTREXATE
     Dosage: 20 MILLIGRAM, QW (1 EVERY 1 WEEKS)
  395. METHOTREXATE [Suspect]
     Active Substance: METHOTREXATE
     Dosage: 20 MILLIGRAM, QW (1 EVERY 1 WEEKS)
     Route: 065
  396. METHOTREXATE [Suspect]
     Active Substance: METHOTREXATE
     Dosage: 20 MILLIGRAM, QW (1 EVERY 1 WEEKS)
     Route: 065
  397. METHOTREXATE [Suspect]
     Active Substance: METHOTREXATE
     Route: 048
  398. METHOTREXATE [Suspect]
     Active Substance: METHOTREXATE
  399. METHOTREXATE [Suspect]
     Active Substance: METHOTREXATE
  400. METHOTREXATE [Suspect]
     Active Substance: METHOTREXATE
     Route: 048
  401. METHOTREXATE [Suspect]
     Active Substance: METHOTREXATE
     Route: 065
  402. METHOTREXATE [Suspect]
     Active Substance: METHOTREXATE
     Route: 065
  403. METHOTREXATE [Suspect]
     Active Substance: METHOTREXATE
  404. METHOTREXATE [Suspect]
     Active Substance: METHOTREXATE
  405. METHOTREXATE [Suspect]
     Active Substance: METHOTREXATE
  406. METHOTREXATE [Suspect]
     Active Substance: METHOTREXATE
  407. METHOTREXATE [Suspect]
     Active Substance: METHOTREXATE
     Route: 048
  408. METHOTREXATE [Suspect]
     Active Substance: METHOTREXATE
     Route: 048
  409. METHOTREXATE [Suspect]
     Active Substance: METHOTREXATE
     Route: 048
  410. METHOTREXATE [Suspect]
     Active Substance: METHOTREXATE
  411. METHOTREXATE [Suspect]
     Active Substance: METHOTREXATE
  412. METHOTREXATE [Suspect]
     Active Substance: METHOTREXATE
     Route: 048
  413. METHOTREXATE [Suspect]
     Active Substance: METHOTREXATE
     Route: 065
  414. METHOTREXATE [Suspect]
     Active Substance: METHOTREXATE
     Route: 065
  415. METHOTREXATE [Suspect]
     Active Substance: METHOTREXATE
  416. METHOTREXATE [Suspect]
     Active Substance: METHOTREXATE
  417. METHOTREXATE [Suspect]
     Active Substance: METHOTREXATE
     Dosage: 25 MILLIGRAM, QW (1 EVERY 1 WEEKS)
     Route: 048
  418. METHOTREXATE [Suspect]
     Active Substance: METHOTREXATE
     Dosage: 25 MILLIGRAM, QW (1 EVERY 1 WEEKS)
     Route: 048
  419. METHOTREXATE [Suspect]
     Active Substance: METHOTREXATE
     Dosage: 25 MILLIGRAM, QW (1 EVERY 1 WEEKS)
  420. METHOTREXATE [Suspect]
     Active Substance: METHOTREXATE
     Dosage: 25 MILLIGRAM, QW (1 EVERY 1 WEEKS)
  421. METHOTREXATE [Suspect]
     Active Substance: METHOTREXATE
     Dosage: 25 MILLIGRAM, QW (1 EVERY 1 WEEKS)
     Route: 065
  422. METHOTREXATE [Suspect]
     Active Substance: METHOTREXATE
     Dosage: 25 MILLIGRAM, QW (1 EVERY 1 WEEKS)
  423. METHOTREXATE [Suspect]
     Active Substance: METHOTREXATE
     Dosage: 25 MILLIGRAM, QW (1 EVERY 1 WEEKS)
  424. METHOTREXATE [Suspect]
     Active Substance: METHOTREXATE
     Dosage: 25 MILLIGRAM, QW (1 EVERY 1 WEEKS)
     Route: 065
  425. NAPROXEN SODIUM [Suspect]
     Active Substance: NAPROXEN SODIUM
     Indication: Rheumatoid arthritis
     Route: 065
  426. NAPROXEN SODIUM [Suspect]
     Active Substance: NAPROXEN SODIUM
     Indication: Headache
  427. NAPROXEN SODIUM [Suspect]
     Active Substance: NAPROXEN SODIUM
  428. NAPROXEN SODIUM [Suspect]
     Active Substance: NAPROXEN SODIUM
     Route: 065
  429. NAPROXEN SODIUM [Suspect]
     Active Substance: NAPROXEN SODIUM
     Dosage: 500 MILLIGRAM, BID (2 EVERY 1 DAYS)
     Route: 065
  430. NAPROXEN SODIUM [Suspect]
     Active Substance: NAPROXEN SODIUM
     Dosage: 500 MILLIGRAM, BID (2 EVERY 1 DAYS)
  431. NAPROXEN SODIUM [Suspect]
     Active Substance: NAPROXEN SODIUM
     Dosage: 500 MILLIGRAM, BID (2 EVERY 1 DAYS)
  432. NAPROXEN SODIUM [Suspect]
     Active Substance: NAPROXEN SODIUM
     Dosage: 500 MILLIGRAM, BID (2 EVERY 1 DAYS)
     Route: 065
  433. NAPROXEN SODIUM [Suspect]
     Active Substance: NAPROXEN SODIUM
     Route: 065
  434. NAPROXEN SODIUM [Suspect]
     Active Substance: NAPROXEN SODIUM
     Route: 065
  435. NAPROXEN SODIUM [Suspect]
     Active Substance: NAPROXEN SODIUM
  436. NAPROXEN SODIUM [Suspect]
     Active Substance: NAPROXEN SODIUM
  437. ORENCIA [Suspect]
     Active Substance: ABATACEPT
     Indication: Rheumatoid arthritis
  438. ORENCIA [Suspect]
     Active Substance: ABATACEPT
  439. ORENCIA [Suspect]
     Active Substance: ABATACEPT
     Route: 058
  440. ORENCIA [Suspect]
     Active Substance: ABATACEPT
     Route: 058
  441. ORENCIA [Suspect]
     Active Substance: ABATACEPT
  442. ORENCIA [Suspect]
     Active Substance: ABATACEPT
  443. ORENCIA [Suspect]
     Active Substance: ABATACEPT
     Route: 042
  444. ORENCIA [Suspect]
     Active Substance: ABATACEPT
     Route: 042
  445. ORENCIA [Suspect]
     Active Substance: ABATACEPT
  446. ORENCIA [Suspect]
     Active Substance: ABATACEPT
     Route: 065
  447. ORENCIA [Suspect]
     Active Substance: ABATACEPT
  448. ORENCIA [Suspect]
     Active Substance: ABATACEPT
     Route: 065
  449. ORENCIA [Suspect]
     Active Substance: ABATACEPT
     Indication: Rheumatoid arthritis
     Route: 042
  450. ORENCIA [Suspect]
     Active Substance: ABATACEPT
  451. ORENCIA [Suspect]
     Active Substance: ABATACEPT
  452. ORENCIA [Suspect]
     Active Substance: ABATACEPT
     Route: 042
  453. ORENCIA [Suspect]
     Active Substance: ABATACEPT
     Route: 042
  454. ORENCIA [Suspect]
     Active Substance: ABATACEPT
  455. ORENCIA [Suspect]
     Active Substance: ABATACEPT
  456. ORENCIA [Suspect]
     Active Substance: ABATACEPT
     Route: 042
  457. PHTHALYLSULFATHIAZOLE [Suspect]
     Active Substance: PHTHALYLSULFATHIAZOLE
     Indication: Rheumatoid arthritis
  458. PHTHALYLSULFATHIAZOLE [Suspect]
     Active Substance: PHTHALYLSULFATHIAZOLE
  459. PHTHALYLSULFATHIAZOLE [Suspect]
     Active Substance: PHTHALYLSULFATHIAZOLE
     Route: 042
  460. PHTHALYLSULFATHIAZOLE [Suspect]
     Active Substance: PHTHALYLSULFATHIAZOLE
     Route: 042
  461. PHTHALYLSULFATHIAZOLE [Suspect]
     Active Substance: PHTHALYLSULFATHIAZOLE
     Route: 058
  462. PHTHALYLSULFATHIAZOLE [Suspect]
     Active Substance: PHTHALYLSULFATHIAZOLE
  463. PHTHALYLSULFATHIAZOLE [Suspect]
     Active Substance: PHTHALYLSULFATHIAZOLE
     Route: 058
  464. PHTHALYLSULFATHIAZOLE [Suspect]
     Active Substance: PHTHALYLSULFATHIAZOLE
  465. PHTHALYLSULFATHIAZOLE [Suspect]
     Active Substance: PHTHALYLSULFATHIAZOLE
     Route: 065
  466. PHTHALYLSULFATHIAZOLE [Suspect]
     Active Substance: PHTHALYLSULFATHIAZOLE
  467. PHTHALYLSULFATHIAZOLE [Suspect]
     Active Substance: PHTHALYLSULFATHIAZOLE
  468. PHTHALYLSULFATHIAZOLE [Suspect]
     Active Substance: PHTHALYLSULFATHIAZOLE
     Route: 065
  469. PHTHALYLSULFATHIAZOLE [Suspect]
     Active Substance: PHTHALYLSULFATHIAZOLE
     Dosage: 500 MILLIGRAM, QD (1 EVERY 1 DAYS)
     Route: 065
  470. PHTHALYLSULFATHIAZOLE [Suspect]
     Active Substance: PHTHALYLSULFATHIAZOLE
     Dosage: 500 MILLIGRAM, QD (1 EVERY 1 DAYS)
  471. PHTHALYLSULFATHIAZOLE [Suspect]
     Active Substance: PHTHALYLSULFATHIAZOLE
     Dosage: 500 MILLIGRAM, QD (1 EVERY 1 DAYS)
  472. PHTHALYLSULFATHIAZOLE [Suspect]
     Active Substance: PHTHALYLSULFATHIAZOLE
     Dosage: 500 MILLIGRAM, QD (1 EVERY 1 DAYS)
     Route: 065
  473. PHTHALYLSULFATHIAZOLE [Suspect]
     Active Substance: PHTHALYLSULFATHIAZOLE
     Route: 065
  474. PHTHALYLSULFATHIAZOLE [Suspect]
     Active Substance: PHTHALYLSULFATHIAZOLE
  475. PHTHALYLSULFATHIAZOLE [Suspect]
     Active Substance: PHTHALYLSULFATHIAZOLE
  476. PHTHALYLSULFATHIAZOLE [Suspect]
     Active Substance: PHTHALYLSULFATHIAZOLE
     Route: 065
  477. PHTHALYLSULFATHIAZOLE [Suspect]
     Active Substance: PHTHALYLSULFATHIAZOLE
     Route: 065
  478. PHTHALYLSULFATHIAZOLE [Suspect]
     Active Substance: PHTHALYLSULFATHIAZOLE
  479. PHTHALYLSULFATHIAZOLE [Suspect]
     Active Substance: PHTHALYLSULFATHIAZOLE
  480. PHTHALYLSULFATHIAZOLE [Suspect]
     Active Substance: PHTHALYLSULFATHIAZOLE
     Route: 065
  481. PREDNISONE [Suspect]
     Active Substance: PREDNISONE
     Indication: Rheumatoid arthritis
  482. PREDNISONE [Suspect]
     Active Substance: PREDNISONE
  483. PREDNISONE [Suspect]
     Active Substance: PREDNISONE
     Route: 048
  484. PREDNISONE [Suspect]
     Active Substance: PREDNISONE
     Route: 048
  485. PREDNISONE [Suspect]
     Active Substance: PREDNISONE
     Route: 065
  486. PREDNISONE [Suspect]
     Active Substance: PREDNISONE
     Route: 065
  487. PREDNISONE [Suspect]
     Active Substance: PREDNISONE
  488. PREDNISONE [Suspect]
     Active Substance: PREDNISONE
  489. PREDNISONE [Suspect]
     Active Substance: PREDNISONE
     Route: 048
  490. PREDNISONE [Suspect]
     Active Substance: PREDNISONE
     Route: 048
  491. PREDNISONE [Suspect]
     Active Substance: PREDNISONE
  492. PREDNISONE [Suspect]
     Active Substance: PREDNISONE
  493. PREDNISONE [Suspect]
     Active Substance: PREDNISONE
  494. PREDNISONE [Suspect]
     Active Substance: PREDNISONE
  495. PREDNISONE [Suspect]
     Active Substance: PREDNISONE
     Route: 048
  496. PREDNISONE [Suspect]
     Active Substance: PREDNISONE
     Route: 048
  497. PSEUDOEPHEDRINE HYDROCHLORIDE [Suspect]
     Active Substance: PSEUDOEPHEDRINE HYDROCHLORIDE
     Indication: Rheumatoid arthritis
  498. PSEUDOEPHEDRINE HYDROCHLORIDE [Suspect]
     Active Substance: PSEUDOEPHEDRINE HYDROCHLORIDE
  499. PSEUDOEPHEDRINE HYDROCHLORIDE [Suspect]
     Active Substance: PSEUDOEPHEDRINE HYDROCHLORIDE
     Route: 065
  500. PSEUDOEPHEDRINE HYDROCHLORIDE [Suspect]
     Active Substance: PSEUDOEPHEDRINE HYDROCHLORIDE
     Route: 065
  501. PSEUDOEPHEDRINE HYDROCHLORIDE [Suspect]
     Active Substance: PSEUDOEPHEDRINE HYDROCHLORIDE
     Route: 065
  502. PSEUDOEPHEDRINE HYDROCHLORIDE [Suspect]
     Active Substance: PSEUDOEPHEDRINE HYDROCHLORIDE
     Route: 065
  503. PSEUDOEPHEDRINE HYDROCHLORIDE [Suspect]
     Active Substance: PSEUDOEPHEDRINE HYDROCHLORIDE
  504. PSEUDOEPHEDRINE HYDROCHLORIDE [Suspect]
     Active Substance: PSEUDOEPHEDRINE HYDROCHLORIDE
  505. PSEUDOEPHEDRINE HYDROCHLORIDE [Suspect]
     Active Substance: PSEUDOEPHEDRINE HYDROCHLORIDE
     Route: 065
  506. PSEUDOEPHEDRINE HYDROCHLORIDE [Suspect]
     Active Substance: PSEUDOEPHEDRINE HYDROCHLORIDE
     Route: 065
  507. PSEUDOEPHEDRINE HYDROCHLORIDE [Suspect]
     Active Substance: PSEUDOEPHEDRINE HYDROCHLORIDE
  508. PSEUDOEPHEDRINE HYDROCHLORIDE [Suspect]
     Active Substance: PSEUDOEPHEDRINE HYDROCHLORIDE
  509. PSEUDOEPHEDRINE HYDROCHLORIDE [Suspect]
     Active Substance: PSEUDOEPHEDRINE HYDROCHLORIDE
  510. PSEUDOEPHEDRINE HYDROCHLORIDE [Suspect]
     Active Substance: PSEUDOEPHEDRINE HYDROCHLORIDE
  511. PSEUDOEPHEDRINE HYDROCHLORIDE [Suspect]
     Active Substance: PSEUDOEPHEDRINE HYDROCHLORIDE
     Route: 065
  512. PSEUDOEPHEDRINE HYDROCHLORIDE [Suspect]
     Active Substance: PSEUDOEPHEDRINE HYDROCHLORIDE
     Route: 065
  513. CETIRIZINE HYDROCHLORIDE\PSEUDOEPHEDRINE HYDROCHLORIDE [Suspect]
     Active Substance: CETIRIZINE HYDROCHLORIDE\PSEUDOEPHEDRINE HYDROCHLORIDE
     Indication: Rheumatoid arthritis
  514. CETIRIZINE HYDROCHLORIDE\PSEUDOEPHEDRINE HYDROCHLORIDE [Suspect]
     Active Substance: CETIRIZINE HYDROCHLORIDE\PSEUDOEPHEDRINE HYDROCHLORIDE
  515. CETIRIZINE HYDROCHLORIDE\PSEUDOEPHEDRINE HYDROCHLORIDE [Suspect]
     Active Substance: CETIRIZINE HYDROCHLORIDE\PSEUDOEPHEDRINE HYDROCHLORIDE
     Route: 065
  516. CETIRIZINE HYDROCHLORIDE\PSEUDOEPHEDRINE HYDROCHLORIDE [Suspect]
     Active Substance: CETIRIZINE HYDROCHLORIDE\PSEUDOEPHEDRINE HYDROCHLORIDE
     Route: 065
  517. CETIRIZINE HYDROCHLORIDE\PSEUDOEPHEDRINE HYDROCHLORIDE [Suspect]
     Active Substance: CETIRIZINE HYDROCHLORIDE\PSEUDOEPHEDRINE HYDROCHLORIDE
  518. CETIRIZINE HYDROCHLORIDE\PSEUDOEPHEDRINE HYDROCHLORIDE [Suspect]
     Active Substance: CETIRIZINE HYDROCHLORIDE\PSEUDOEPHEDRINE HYDROCHLORIDE
  519. CETIRIZINE HYDROCHLORIDE\PSEUDOEPHEDRINE HYDROCHLORIDE [Suspect]
     Active Substance: CETIRIZINE HYDROCHLORIDE\PSEUDOEPHEDRINE HYDROCHLORIDE
     Route: 065
  520. CETIRIZINE HYDROCHLORIDE\PSEUDOEPHEDRINE HYDROCHLORIDE [Suspect]
     Active Substance: CETIRIZINE HYDROCHLORIDE\PSEUDOEPHEDRINE HYDROCHLORIDE
     Route: 065
  521. CETIRIZINE HYDROCHLORIDE\PSEUDOEPHEDRINE HYDROCHLORIDE [Suspect]
     Active Substance: CETIRIZINE HYDROCHLORIDE\PSEUDOEPHEDRINE HYDROCHLORIDE
     Indication: Rheumatoid arthritis
  522. CETIRIZINE HYDROCHLORIDE\PSEUDOEPHEDRINE HYDROCHLORIDE [Suspect]
     Active Substance: CETIRIZINE HYDROCHLORIDE\PSEUDOEPHEDRINE HYDROCHLORIDE
     Route: 065
  523. CETIRIZINE HYDROCHLORIDE\PSEUDOEPHEDRINE HYDROCHLORIDE [Suspect]
     Active Substance: CETIRIZINE HYDROCHLORIDE\PSEUDOEPHEDRINE HYDROCHLORIDE
     Route: 065
  524. CETIRIZINE HYDROCHLORIDE\PSEUDOEPHEDRINE HYDROCHLORIDE [Suspect]
     Active Substance: CETIRIZINE HYDROCHLORIDE\PSEUDOEPHEDRINE HYDROCHLORIDE
  525. CETIRIZINE HYDROCHLORIDE\PSEUDOEPHEDRINE HYDROCHLORIDE [Suspect]
     Active Substance: CETIRIZINE HYDROCHLORIDE\PSEUDOEPHEDRINE HYDROCHLORIDE
  526. CETIRIZINE HYDROCHLORIDE\PSEUDOEPHEDRINE HYDROCHLORIDE [Suspect]
     Active Substance: CETIRIZINE HYDROCHLORIDE\PSEUDOEPHEDRINE HYDROCHLORIDE
     Route: 065
  527. CETIRIZINE HYDROCHLORIDE\PSEUDOEPHEDRINE HYDROCHLORIDE [Suspect]
     Active Substance: CETIRIZINE HYDROCHLORIDE\PSEUDOEPHEDRINE HYDROCHLORIDE
  528. CETIRIZINE HYDROCHLORIDE\PSEUDOEPHEDRINE HYDROCHLORIDE [Suspect]
     Active Substance: CETIRIZINE HYDROCHLORIDE\PSEUDOEPHEDRINE HYDROCHLORIDE
     Route: 065
  529. CETIRIZINE HYDROCHLORIDE\PSEUDOEPHEDRINE HYDROCHLORIDE [Suspect]
     Active Substance: CETIRIZINE HYDROCHLORIDE\PSEUDOEPHEDRINE HYDROCHLORIDE
     Route: 065
  530. CETIRIZINE HYDROCHLORIDE\PSEUDOEPHEDRINE HYDROCHLORIDE [Suspect]
     Active Substance: CETIRIZINE HYDROCHLORIDE\PSEUDOEPHEDRINE HYDROCHLORIDE
     Route: 065
  531. CETIRIZINE HYDROCHLORIDE\PSEUDOEPHEDRINE HYDROCHLORIDE [Suspect]
     Active Substance: CETIRIZINE HYDROCHLORIDE\PSEUDOEPHEDRINE HYDROCHLORIDE
  532. CETIRIZINE HYDROCHLORIDE\PSEUDOEPHEDRINE HYDROCHLORIDE [Suspect]
     Active Substance: CETIRIZINE HYDROCHLORIDE\PSEUDOEPHEDRINE HYDROCHLORIDE
  533. REMICADE [Suspect]
     Active Substance: INFLIXIMAB
     Indication: Rheumatoid arthritis
  534. REMICADE [Suspect]
     Active Substance: INFLIXIMAB
  535. REMICADE [Suspect]
     Active Substance: INFLIXIMAB
     Route: 042
  536. REMICADE [Suspect]
     Active Substance: INFLIXIMAB
     Route: 042
  537. REMICADE [Suspect]
     Active Substance: INFLIXIMAB
     Route: 042
  538. REMICADE [Suspect]
     Active Substance: INFLIXIMAB
     Route: 042
  539. REMICADE [Suspect]
     Active Substance: INFLIXIMAB
  540. REMICADE [Suspect]
     Active Substance: INFLIXIMAB
  541. REMICADE [Suspect]
     Active Substance: INFLIXIMAB
     Route: 042
  542. REMICADE [Suspect]
     Active Substance: INFLIXIMAB
  543. REMICADE [Suspect]
     Active Substance: INFLIXIMAB
  544. REMICADE [Suspect]
     Active Substance: INFLIXIMAB
     Route: 042
  545. REMICADE [Suspect]
     Active Substance: INFLIXIMAB
     Route: 042
  546. REMICADE [Suspect]
     Active Substance: INFLIXIMAB
     Route: 042
  547. REMICADE [Suspect]
     Active Substance: INFLIXIMAB
  548. REMICADE [Suspect]
     Active Substance: INFLIXIMAB
  549. REMICADE [Suspect]
     Active Substance: INFLIXIMAB
     Route: 065
  550. REMICADE [Suspect]
     Active Substance: INFLIXIMAB
  551. REMICADE [Suspect]
     Active Substance: INFLIXIMAB
  552. REMICADE [Suspect]
     Active Substance: INFLIXIMAB
     Route: 065
  553. REMICADE [Suspect]
     Active Substance: INFLIXIMAB
  554. REMICADE [Suspect]
     Active Substance: INFLIXIMAB
  555. REMICADE [Suspect]
     Active Substance: INFLIXIMAB
     Route: 065
  556. REMICADE [Suspect]
     Active Substance: INFLIXIMAB
     Route: 065
  557. STELARA [Suspect]
     Active Substance: USTEKINUMAB
     Indication: Rheumatoid arthritis
  558. STELARA [Suspect]
     Active Substance: USTEKINUMAB
  559. STELARA [Suspect]
     Active Substance: USTEKINUMAB
     Route: 058
  560. STELARA [Suspect]
     Active Substance: USTEKINUMAB
     Route: 058
  561. STELARA [Suspect]
     Active Substance: USTEKINUMAB
     Route: 065
  562. STELARA [Suspect]
     Active Substance: USTEKINUMAB
     Route: 065
  563. STELARA [Suspect]
     Active Substance: USTEKINUMAB
  564. STELARA [Suspect]
     Active Substance: USTEKINUMAB
  565. STELARA [Suspect]
     Active Substance: USTEKINUMAB
     Route: 058
  566. STELARA [Suspect]
     Active Substance: USTEKINUMAB
  567. STELARA [Suspect]
     Active Substance: USTEKINUMAB
  568. STELARA [Suspect]
     Active Substance: USTEKINUMAB
     Route: 058
  569. STELARA [Suspect]
     Active Substance: USTEKINUMAB
  570. STELARA [Suspect]
     Active Substance: USTEKINUMAB
  571. STELARA [Suspect]
     Active Substance: USTEKINUMAB
     Route: 065
  572. STELARA [Suspect]
     Active Substance: USTEKINUMAB
     Route: 065
  573. RITUXIMAB [Suspect]
     Active Substance: RITUXIMAB
     Indication: Rheumatoid arthritis
  574. RITUXIMAB [Suspect]
     Active Substance: RITUXIMAB
  575. RITUXIMAB [Suspect]
     Active Substance: RITUXIMAB
     Route: 042
  576. RITUXIMAB [Suspect]
     Active Substance: RITUXIMAB
     Route: 042
  577. RITUXIMAB [Suspect]
     Active Substance: RITUXIMAB
  578. RITUXIMAB [Suspect]
     Active Substance: RITUXIMAB
  579. RITUXIMAB [Suspect]
     Active Substance: RITUXIMAB
     Route: 043
  580. RITUXIMAB [Suspect]
     Active Substance: RITUXIMAB
     Route: 043
  581. SULFASALAZINE [Suspect]
     Active Substance: SULFASALAZINE
     Indication: Rheumatoid arthritis
     Route: 048
  582. SULFASALAZINE [Suspect]
     Active Substance: SULFASALAZINE
  583. SULFASALAZINE [Suspect]
     Active Substance: SULFASALAZINE
  584. SULFASALAZINE [Suspect]
     Active Substance: SULFASALAZINE
     Route: 048
  585. SULFASALAZINE [Suspect]
     Active Substance: SULFASALAZINE
     Dosage: 300 MILLIGRAM, QD (1 EVERY 1 DAYS)
     Route: 065
  586. SULFASALAZINE [Suspect]
     Active Substance: SULFASALAZINE
     Dosage: 300 MILLIGRAM, QD (1 EVERY 1 DAYS)
  587. SULFASALAZINE [Suspect]
     Active Substance: SULFASALAZINE
     Dosage: 300 MILLIGRAM, QD (1 EVERY 1 DAYS)
  588. SULFASALAZINE [Suspect]
     Active Substance: SULFASALAZINE
     Dosage: 300 MILLIGRAM, QD (1 EVERY 1 DAYS)
     Route: 065
  589. SULFASALAZINE [Suspect]
     Active Substance: SULFASALAZINE
     Dosage: 2 GRAM, QD (1 EVERY 1 DAYS)
  590. SULFASALAZINE [Suspect]
     Active Substance: SULFASALAZINE
     Dosage: 2 GRAM, QD (1 EVERY 1 DAYS)
  591. SULFASALAZINE [Suspect]
     Active Substance: SULFASALAZINE
     Dosage: 2 GRAM, QD (1 EVERY 1 DAYS)
     Route: 065
  592. SULFASALAZINE [Suspect]
     Active Substance: SULFASALAZINE
     Dosage: 2 GRAM, QD (1 EVERY 1 DAYS)
     Route: 065
  593. SULFASALAZINE [Suspect]
     Active Substance: SULFASALAZINE
  594. SULFASALAZINE [Suspect]
     Active Substance: SULFASALAZINE
  595. SULFASALAZINE [Suspect]
     Active Substance: SULFASALAZINE
     Route: 048
  596. SULFASALAZINE [Suspect]
     Active Substance: SULFASALAZINE
     Route: 048
  597. SULFASALAZINE [Suspect]
     Active Substance: SULFASALAZINE
     Dosage: 1 DOSAGE FORM, BID (1 EVERY 12 HOURS)
  598. SULFASALAZINE [Suspect]
     Active Substance: SULFASALAZINE
     Dosage: 1 DOSAGE FORM, BID (1 EVERY 12 HOURS)
  599. SULFASALAZINE [Suspect]
     Active Substance: SULFASALAZINE
     Dosage: 1 DOSAGE FORM, BID (1 EVERY 12 HOURS)
     Route: 048
  600. SULFASALAZINE [Suspect]
     Active Substance: SULFASALAZINE
     Dosage: 1 DOSAGE FORM, BID (1 EVERY 12 HOURS)
     Route: 048
  601. SULFASALAZINE [Suspect]
     Active Substance: SULFASALAZINE
     Route: 048
  602. SULFASALAZINE [Suspect]
     Active Substance: SULFASALAZINE
  603. SULFASALAZINE [Suspect]
     Active Substance: SULFASALAZINE
  604. SULFASALAZINE [Suspect]
     Active Substance: SULFASALAZINE
     Route: 048
  605. SULFASALAZINE [Suspect]
     Active Substance: SULFASALAZINE
     Dosage: 1000 MILLIGRAM, BID (1 EVERY 12 HOURS)
     Route: 048
  606. SULFASALAZINE [Suspect]
     Active Substance: SULFASALAZINE
     Dosage: 1000 MILLIGRAM, BID (1 EVERY 12 HOURS)
  607. SULFASALAZINE [Suspect]
     Active Substance: SULFASALAZINE
     Dosage: 1000 MILLIGRAM, BID (1 EVERY 12 HOURS)
  608. SULFASALAZINE [Suspect]
     Active Substance: SULFASALAZINE
     Dosage: 1000 MILLIGRAM, BID (1 EVERY 12 HOURS)
     Route: 048
  609. SULFASALAZINE [Suspect]
     Active Substance: SULFASALAZINE
  610. SULFASALAZINE [Suspect]
     Active Substance: SULFASALAZINE
  611. SULFASALAZINE [Suspect]
     Active Substance: SULFASALAZINE
     Route: 065
  612. SULFASALAZINE [Suspect]
     Active Substance: SULFASALAZINE
     Route: 065
  613. SULFASALAZINE [Suspect]
     Active Substance: SULFASALAZINE
     Dosage: 1 GRAM, BID (1 EVERY 12 HOURS)
  614. SULFASALAZINE [Suspect]
     Active Substance: SULFASALAZINE
     Dosage: 1 GRAM, BID (1 EVERY 12 HOURS)
     Route: 048
  615. SULFASALAZINE [Suspect]
     Active Substance: SULFASALAZINE
     Dosage: 1 GRAM, BID (1 EVERY 12 HOURS)
  616. SULFASALAZINE [Suspect]
     Active Substance: SULFASALAZINE
     Dosage: 1 GRAM, BID (1 EVERY 12 HOURS)
     Route: 048
  617. TOCILIZUMAB [Suspect]
     Active Substance: TOCILIZUMAB
     Indication: Rheumatoid arthritis
     Route: 058
  618. TOCILIZUMAB [Suspect]
     Active Substance: TOCILIZUMAB
  619. TOCILIZUMAB [Suspect]
     Active Substance: TOCILIZUMAB
  620. TOCILIZUMAB [Suspect]
     Active Substance: TOCILIZUMAB
     Route: 058
  621. TOCILIZUMAB [Suspect]
     Active Substance: TOCILIZUMAB
     Route: 065
  622. TOCILIZUMAB [Suspect]
     Active Substance: TOCILIZUMAB
  623. TOCILIZUMAB [Suspect]
     Active Substance: TOCILIZUMAB
  624. TOCILIZUMAB [Suspect]
     Active Substance: TOCILIZUMAB
     Route: 065
  625. TOCILIZUMAB [Suspect]
     Active Substance: TOCILIZUMAB
     Dosage: 5 MILLIGRAM, BID (2 EVERY 1 DAY)
     Route: 065
  626. TOCILIZUMAB [Suspect]
     Active Substance: TOCILIZUMAB
     Dosage: 5 MILLIGRAM, BID (2 EVERY 1 DAY)
     Route: 065
  627. TOCILIZUMAB [Suspect]
     Active Substance: TOCILIZUMAB
     Dosage: 5 MILLIGRAM, BID (2 EVERY 1 DAY)
  628. TOCILIZUMAB [Suspect]
     Active Substance: TOCILIZUMAB
     Dosage: 5 MILLIGRAM, BID (2 EVERY 1 DAY)
  629. SIMPONI [Suspect]
     Active Substance: GOLIMUMAB
     Indication: Rheumatoid arthritis
     Route: 058
  630. SIMPONI [Suspect]
     Active Substance: GOLIMUMAB
  631. SIMPONI [Suspect]
     Active Substance: GOLIMUMAB
  632. SIMPONI [Suspect]
     Active Substance: GOLIMUMAB
     Route: 058
  633. SIMPONI [Suspect]
     Active Substance: GOLIMUMAB
     Route: 065
  634. SIMPONI [Suspect]
     Active Substance: GOLIMUMAB
  635. SIMPONI [Suspect]
     Active Substance: GOLIMUMAB
  636. SIMPONI [Suspect]
     Active Substance: GOLIMUMAB
     Route: 065
  637. ALENDRONATE [Suspect]
     Active Substance: ALENDRONATE SODIUM
     Indication: Rheumatoid arthritis
  638. ALENDRONATE [Suspect]
     Active Substance: ALENDRONATE SODIUM
  639. ALENDRONATE [Suspect]
     Active Substance: ALENDRONATE SODIUM
     Route: 016
  640. ALENDRONATE [Suspect]
     Active Substance: ALENDRONATE SODIUM
     Route: 016
  641. ALENDRONATE [Suspect]
     Active Substance: ALENDRONATE SODIUM
  642. ALENDRONATE [Suspect]
     Active Substance: ALENDRONATE SODIUM
  643. ALENDRONATE [Suspect]
     Active Substance: ALENDRONATE SODIUM
     Route: 048
  644. ALENDRONATE [Suspect]
     Active Substance: ALENDRONATE SODIUM
     Route: 048
  645. DICLOFENAC SODIUM [Suspect]
     Active Substance: DICLOFENAC SODIUM
     Indication: Product used for unknown indication
  646. DICLOFENAC SODIUM [Suspect]
     Active Substance: DICLOFENAC SODIUM
     Route: 065
  647. DICLOFENAC SODIUM [Suspect]
     Active Substance: DICLOFENAC SODIUM
     Route: 065
  648. DICLOFENAC SODIUM [Suspect]
     Active Substance: DICLOFENAC SODIUM
  649. CALCIUM [Suspect]
     Active Substance: CALCIUM
     Indication: Product used for unknown indication
  650. CALCIUM [Suspect]
     Active Substance: CALCIUM
     Route: 065
  651. CALCIUM [Suspect]
     Active Substance: CALCIUM
     Route: 065
  652. CALCIUM [Suspect]
     Active Substance: CALCIUM
  653. CALCIUM GLUBIONATE [Suspect]
     Active Substance: CALCIUM GLUBIONATE
     Indication: Rheumatoid arthritis
  654. CALCIUM GLUBIONATE [Suspect]
     Active Substance: CALCIUM GLUBIONATE
     Route: 065
  655. CALCIUM GLUBIONATE [Suspect]
     Active Substance: CALCIUM GLUBIONATE
     Route: 065
  656. CALCIUM GLUBIONATE [Suspect]
     Active Substance: CALCIUM GLUBIONATE
  657. CHLORAPREP [Suspect]
     Active Substance: CHLORHEXIDINE GLUCONATE\ISOPROPYL ALCOHOL
     Indication: Rheumatoid arthritis
  658. CHLORAPREP [Suspect]
     Active Substance: CHLORHEXIDINE GLUCONATE\ISOPROPYL ALCOHOL
     Route: 061
  659. CHLORAPREP [Suspect]
     Active Substance: CHLORHEXIDINE GLUCONATE\ISOPROPYL ALCOHOL
     Route: 061
  660. CHLORAPREP [Suspect]
     Active Substance: CHLORHEXIDINE GLUCONATE\ISOPROPYL ALCOHOL
  661. CHLORHEXIDINE [Suspect]
     Active Substance: CHLORHEXIDINE
     Indication: Product used for unknown indication
  662. CHLORHEXIDINE [Suspect]
     Active Substance: CHLORHEXIDINE
     Route: 002
  663. CHLORHEXIDINE [Suspect]
     Active Substance: CHLORHEXIDINE
     Route: 002
  664. CHLORHEXIDINE [Suspect]
     Active Substance: CHLORHEXIDINE
  665. CHOLECALCIFEROL [Suspect]
     Active Substance: CHOLECALCIFEROL
     Indication: Product used for unknown indication
  666. CHOLECALCIFEROL [Suspect]
     Active Substance: CHOLECALCIFEROL
     Route: 016
  667. CHOLECALCIFEROL [Suspect]
     Active Substance: CHOLECALCIFEROL
     Route: 016
  668. CHOLECALCIFEROL [Suspect]
     Active Substance: CHOLECALCIFEROL
  669. DICLOFENAC [Suspect]
     Active Substance: DICLOFENAC
     Indication: Product used for unknown indication
     Route: 047
  670. DICLOFENAC [Suspect]
     Active Substance: DICLOFENAC
  671. DICLOFENAC [Suspect]
     Active Substance: DICLOFENAC
  672. DICLOFENAC [Suspect]
     Active Substance: DICLOFENAC
     Route: 047
  673. DICLOFENAC [Suspect]
     Active Substance: DICLOFENAC
     Route: 065
  674. DICLOFENAC [Suspect]
     Active Substance: DICLOFENAC
  675. DICLOFENAC [Suspect]
     Active Substance: DICLOFENAC
  676. DICLOFENAC [Suspect]
     Active Substance: DICLOFENAC
     Route: 065
  677. DICLOFENAC [Suspect]
     Active Substance: DICLOFENAC
     Route: 031
  678. DICLOFENAC [Suspect]
     Active Substance: DICLOFENAC
     Route: 031
  679. DICLOFENAC [Suspect]
     Active Substance: DICLOFENAC
  680. DICLOFENAC [Suspect]
     Active Substance: DICLOFENAC
  681. DICLOFENAC POTASSIUM [Suspect]
     Active Substance: DICLOFENAC POTASSIUM
     Indication: Product used for unknown indication
  682. DICLOFENAC POTASSIUM [Suspect]
     Active Substance: DICLOFENAC POTASSIUM
     Route: 065
  683. DICLOFENAC POTASSIUM [Suspect]
     Active Substance: DICLOFENAC POTASSIUM
     Route: 065
  684. DICLOFENAC POTASSIUM [Suspect]
     Active Substance: DICLOFENAC POTASSIUM
  685. DOXYCYCLINE [Suspect]
     Active Substance: DOXYCYCLINE
     Indication: Product used for unknown indication
  686. DOXYCYCLINE [Suspect]
     Active Substance: DOXYCYCLINE
     Route: 065
  687. DOXYCYCLINE [Suspect]
     Active Substance: DOXYCYCLINE
     Route: 065
  688. DOXYCYCLINE [Suspect]
     Active Substance: DOXYCYCLINE
  689. ERELZI [Suspect]
     Active Substance: ETANERCEPT-SZZS
     Indication: Rheumatoid arthritis
     Route: 058
  690. ERELZI [Suspect]
     Active Substance: ETANERCEPT-SZZS
  691. ERELZI [Suspect]
     Active Substance: ETANERCEPT-SZZS
  692. ERELZI [Suspect]
     Active Substance: ETANERCEPT-SZZS
     Route: 058
  693. ERELZI [Suspect]
     Active Substance: ETANERCEPT-SZZS
     Dosage: 50 MILLIGRAM, BID (2 EVERY 1 DAYS)
     Route: 058
  694. ERELZI [Suspect]
     Active Substance: ETANERCEPT-SZZS
     Dosage: 50 MILLIGRAM, BID (2 EVERY 1 DAYS)
  695. ERELZI [Suspect]
     Active Substance: ETANERCEPT-SZZS
     Dosage: 50 MILLIGRAM, BID (2 EVERY 1 DAYS)
  696. ERELZI [Suspect]
     Active Substance: ETANERCEPT-SZZS
     Dosage: 50 MILLIGRAM, BID (2 EVERY 1 DAYS)
     Route: 058
  697. ERELZI [Suspect]
     Active Substance: ETANERCEPT-SZZS
     Route: 065
  698. ERELZI [Suspect]
     Active Substance: ETANERCEPT-SZZS
     Route: 065
  699. ERELZI [Suspect]
     Active Substance: ETANERCEPT-SZZS
  700. ERELZI [Suspect]
     Active Substance: ETANERCEPT-SZZS
  701. HYDROCORTISONE ACETATE [Suspect]
     Active Substance: HYDROCORTISONE ACETATE
     Indication: Rheumatoid arthritis
  702. HYDROCORTISONE ACETATE [Suspect]
     Active Substance: HYDROCORTISONE ACETATE
     Route: 065
  703. HYDROCORTISONE ACETATE [Suspect]
     Active Substance: HYDROCORTISONE ACETATE
     Route: 065
  704. HYDROCORTISONE ACETATE [Suspect]
     Active Substance: HYDROCORTISONE ACETATE
  705. FLUMETHASONE PIVALATE [Suspect]
     Active Substance: FLUMETHASONE PIVALATE
     Indication: Product used for unknown indication
  706. FLUMETHASONE PIVALATE [Suspect]
     Active Substance: FLUMETHASONE PIVALATE
     Route: 065
  707. FLUMETHASONE PIVALATE [Suspect]
     Active Substance: FLUMETHASONE PIVALATE
     Route: 065
  708. FLUMETHASONE PIVALATE [Suspect]
     Active Substance: FLUMETHASONE PIVALATE
  709. OTEZLA [Suspect]
     Active Substance: APREMILAST
     Indication: Rheumatoid arthritis
     Dosage: 3 MILLIGRAM, BID (2 EVERY 1 DAYS)
     Route: 065
  710. OTEZLA [Suspect]
     Active Substance: APREMILAST
     Dosage: 3 MILLIGRAM, BID (2 EVERY 1 DAYS)
  711. OTEZLA [Suspect]
     Active Substance: APREMILAST
     Dosage: 3 MILLIGRAM, BID (2 EVERY 1 DAYS)
  712. OTEZLA [Suspect]
     Active Substance: APREMILAST
     Dosage: 3 MILLIGRAM, BID (2 EVERY 1 DAYS)
     Route: 065
  713. OTEZLA [Suspect]
     Active Substance: APREMILAST
     Dosage: 3 MILLIGRAM, BID (2 EVERY 1 DAYS)
     Route: 048
  714. OTEZLA [Suspect]
     Active Substance: APREMILAST
     Dosage: 3 MILLIGRAM, BID (2 EVERY 1 DAYS)
  715. OTEZLA [Suspect]
     Active Substance: APREMILAST
     Dosage: 3 MILLIGRAM, BID (2 EVERY 1 DAYS)
  716. OTEZLA [Suspect]
     Active Substance: APREMILAST
     Dosage: 3 MILLIGRAM, BID (2 EVERY 1 DAYS)
     Route: 048
  717. OXYCODONE [Suspect]
     Active Substance: OXYCODONE
     Indication: Product used for unknown indication
  718. OXYCODONE [Suspect]
     Active Substance: OXYCODONE
     Route: 065
  719. OXYCODONE [Suspect]
     Active Substance: OXYCODONE
     Route: 065
  720. OXYCODONE [Suspect]
     Active Substance: OXYCODONE
  721. OXYCODONE TEREPHTHALATE [Suspect]
     Active Substance: OXYCODONE TEREPHTHALATE
     Indication: Product used for unknown indication
  722. OXYCODONE TEREPHTHALATE [Suspect]
     Active Substance: OXYCODONE TEREPHTHALATE
     Route: 065
  723. OXYCODONE TEREPHTHALATE [Suspect]
     Active Substance: OXYCODONE TEREPHTHALATE
     Route: 065
  724. OXYCODONE TEREPHTHALATE [Suspect]
     Active Substance: OXYCODONE TEREPHTHALATE
  725. PERIOGARD [Suspect]
     Active Substance: CHLORHEXIDINE GLUCONATE
     Indication: Product used for unknown indication
     Route: 065
  726. PERIOGARD [Suspect]
     Active Substance: CHLORHEXIDINE GLUCONATE
  727. PERIOGARD [Suspect]
     Active Substance: CHLORHEXIDINE GLUCONATE
  728. PERIOGARD [Suspect]
     Active Substance: CHLORHEXIDINE GLUCONATE
     Route: 065
  729. PERIOGARD [Suspect]
     Active Substance: CHLORHEXIDINE GLUCONATE
     Route: 002
  730. PERIOGARD [Suspect]
     Active Substance: CHLORHEXIDINE GLUCONATE
  731. PERIOGARD [Suspect]
     Active Substance: CHLORHEXIDINE GLUCONATE
  732. PERIOGARD [Suspect]
     Active Substance: CHLORHEXIDINE GLUCONATE
     Route: 002
  733. DIETARY SUPPLEMENT [Suspect]
     Active Substance: DIETARY SUPPLEMENT
     Indication: Product used for unknown indication
  734. DIETARY SUPPLEMENT [Suspect]
     Active Substance: DIETARY SUPPLEMENT
     Route: 065
  735. DIETARY SUPPLEMENT [Suspect]
     Active Substance: DIETARY SUPPLEMENT
     Route: 065
  736. DIETARY SUPPLEMENT [Suspect]
     Active Substance: DIETARY SUPPLEMENT
  737. PREDNISONE [Suspect]
     Active Substance: PREDNISONE
     Indication: Rheumatoid arthritis
  738. PREDNISONE [Suspect]
     Active Substance: PREDNISONE
     Route: 065
  739. PREDNISONE [Suspect]
     Active Substance: PREDNISONE
     Route: 065
  740. PREDNISONE [Suspect]
     Active Substance: PREDNISONE
  741. ACETAMINOPHEN\OXYCODONE HYDROCHLORIDE [Suspect]
     Active Substance: ACETAMINOPHEN\OXYCODONE HYDROCHLORIDE
     Indication: Product used for unknown indication
  742. ACETAMINOPHEN\OXYCODONE HYDROCHLORIDE [Suspect]
     Active Substance: ACETAMINOPHEN\OXYCODONE HYDROCHLORIDE
     Route: 065
  743. ACETAMINOPHEN\OXYCODONE HYDROCHLORIDE [Suspect]
     Active Substance: ACETAMINOPHEN\OXYCODONE HYDROCHLORIDE
     Route: 065
  744. ACETAMINOPHEN\OXYCODONE HYDROCHLORIDE [Suspect]
     Active Substance: ACETAMINOPHEN\OXYCODONE HYDROCHLORIDE
  745. ACETAMINOPHEN\CYANOCOBALAMIN\THIAMINE\TRAMADOL HYDROCHLORIDE [Suspect]
     Active Substance: ACETAMINOPHEN\CYANOCOBALAMIN\THIAMINE\TRAMADOL HYDROCHLORIDE
     Indication: Product used for unknown indication
  746. ACETAMINOPHEN\CYANOCOBALAMIN\THIAMINE\TRAMADOL HYDROCHLORIDE [Suspect]
     Active Substance: ACETAMINOPHEN\CYANOCOBALAMIN\THIAMINE\TRAMADOL HYDROCHLORIDE
     Route: 065
  747. ACETAMINOPHEN\CYANOCOBALAMIN\THIAMINE\TRAMADOL HYDROCHLORIDE [Suspect]
     Active Substance: ACETAMINOPHEN\CYANOCOBALAMIN\THIAMINE\TRAMADOL HYDROCHLORIDE
     Route: 065
  748. ACETAMINOPHEN\CYANOCOBALAMIN\THIAMINE\TRAMADOL HYDROCHLORIDE [Suspect]
     Active Substance: ACETAMINOPHEN\CYANOCOBALAMIN\THIAMINE\TRAMADOL HYDROCHLORIDE
  749. ACTEMRA [Suspect]
     Active Substance: TOCILIZUMAB
     Indication: Rheumatoid arthritis
  750. ACTEMRA [Suspect]
     Active Substance: TOCILIZUMAB
  751. ACTEMRA [Suspect]
     Active Substance: TOCILIZUMAB
     Route: 016
  752. ACTEMRA [Suspect]
     Active Substance: TOCILIZUMAB
     Route: 016
  753. ACTEMRA [Suspect]
     Active Substance: TOCILIZUMAB
     Route: 042
  754. ACTEMRA [Suspect]
     Active Substance: TOCILIZUMAB
     Route: 042
  755. ACTEMRA [Suspect]
     Active Substance: TOCILIZUMAB
  756. ACTEMRA [Suspect]
     Active Substance: TOCILIZUMAB
  757. ACTEMRA [Suspect]
     Active Substance: TOCILIZUMAB
     Route: 058
  758. ACTEMRA [Suspect]
     Active Substance: TOCILIZUMAB
  759. ACTEMRA [Suspect]
     Active Substance: TOCILIZUMAB
  760. ACTEMRA [Suspect]
     Active Substance: TOCILIZUMAB
     Route: 058
  761. ACTEMRA [Suspect]
     Active Substance: TOCILIZUMAB
     Route: 058
  762. ACTEMRA [Suspect]
     Active Substance: TOCILIZUMAB
     Route: 058
  763. ACTEMRA [Suspect]
     Active Substance: TOCILIZUMAB
  764. ACTEMRA [Suspect]
     Active Substance: TOCILIZUMAB
  765. ACTEMRA [Suspect]
     Active Substance: TOCILIZUMAB
     Route: 058
  766. ACTEMRA [Suspect]
     Active Substance: TOCILIZUMAB
  767. ACTEMRA [Suspect]
     Active Substance: TOCILIZUMAB
  768. ACTEMRA [Suspect]
     Active Substance: TOCILIZUMAB
     Route: 058
  769. ACTEMRA [Suspect]
     Active Substance: TOCILIZUMAB
  770. ACTEMRA [Suspect]
     Active Substance: TOCILIZUMAB
  771. ACTEMRA [Suspect]
     Active Substance: TOCILIZUMAB
     Route: 065
  772. ACTEMRA [Suspect]
     Active Substance: TOCILIZUMAB
     Route: 065
  773. ALENDRONATE SODIUM [Suspect]
     Active Substance: ALENDRONATE SODIUM
     Indication: Rheumatoid arthritis
  774. ALENDRONATE SODIUM [Suspect]
     Active Substance: ALENDRONATE SODIUM
     Route: 065
  775. ALENDRONATE SODIUM [Suspect]
     Active Substance: ALENDRONATE SODIUM
     Route: 065
  776. ALENDRONATE SODIUM [Suspect]
     Active Substance: ALENDRONATE SODIUM
  777. ALENDRONIC ACID\CALCIUM CITRATE\CHOLECALCIFEROL [Suspect]
     Active Substance: ALENDRONIC ACID\CALCIUM CITRATE\CHOLECALCIFEROL
     Indication: Rheumatoid arthritis
  778. ALENDRONIC ACID\CALCIUM CITRATE\CHOLECALCIFEROL [Suspect]
     Active Substance: ALENDRONIC ACID\CALCIUM CITRATE\CHOLECALCIFEROL
     Route: 065
  779. ALENDRONIC ACID\CALCIUM CITRATE\CHOLECALCIFEROL [Suspect]
     Active Substance: ALENDRONIC ACID\CALCIUM CITRATE\CHOLECALCIFEROL
     Route: 065
  780. ALENDRONIC ACID\CALCIUM CITRATE\CHOLECALCIFEROL [Suspect]
     Active Substance: ALENDRONIC ACID\CALCIUM CITRATE\CHOLECALCIFEROL
  781. APREMILAST [Suspect]
     Active Substance: APREMILAST
     Indication: Product used for unknown indication
     Dosage: 3 MILLIGRAM, BID (2 EVERY 1 DAYS)
  782. APREMILAST [Suspect]
     Active Substance: APREMILAST
     Dosage: 3 MILLIGRAM, BID (2 EVERY 1 DAYS)
     Route: 065
  783. APREMILAST [Suspect]
     Active Substance: APREMILAST
     Dosage: 3 MILLIGRAM, BID (2 EVERY 1 DAYS)
     Route: 065
  784. APREMILAST [Suspect]
     Active Substance: APREMILAST
     Dosage: 3 MILLIGRAM, BID (2 EVERY 1 DAYS)
  785. AZATHIOPRINE SODIUM [Suspect]
     Active Substance: AZATHIOPRINE SODIUM
     Indication: Rheumatoid arthritis
  786. AZATHIOPRINE SODIUM [Suspect]
     Active Substance: AZATHIOPRINE SODIUM
     Route: 065
  787. AZATHIOPRINE SODIUM [Suspect]
     Active Substance: AZATHIOPRINE SODIUM
     Route: 065
  788. AZATHIOPRINE SODIUM [Suspect]
     Active Substance: AZATHIOPRINE SODIUM
  789. BUPIVACAINE HYDROCHLORIDE\CLONIDINE HYDROCHLORIDE\MORPHINE SULFATE [Suspect]
     Active Substance: BUPIVACAINE HYDROCHLORIDE\CLONIDINE HYDROCHLORIDE\MORPHINE SULFATE
     Indication: Rheumatoid arthritis
  790. BUPIVACAINE HYDROCHLORIDE\CLONIDINE HYDROCHLORIDE\MORPHINE SULFATE [Suspect]
     Active Substance: BUPIVACAINE HYDROCHLORIDE\CLONIDINE HYDROCHLORIDE\MORPHINE SULFATE
     Route: 065
  791. BUPIVACAINE HYDROCHLORIDE\CLONIDINE HYDROCHLORIDE\MORPHINE SULFATE [Suspect]
     Active Substance: BUPIVACAINE HYDROCHLORIDE\CLONIDINE HYDROCHLORIDE\MORPHINE SULFATE
     Route: 065
  792. BUPIVACAINE HYDROCHLORIDE\CLONIDINE HYDROCHLORIDE\MORPHINE SULFATE [Suspect]
     Active Substance: BUPIVACAINE HYDROCHLORIDE\CLONIDINE HYDROCHLORIDE\MORPHINE SULFATE
  793. AMINOSALICYLATE CALCIUM [Suspect]
     Active Substance: AMINOSALICYLATE CALCIUM
     Indication: Product used for unknown indication
  794. AMINOSALICYLATE CALCIUM [Suspect]
     Active Substance: AMINOSALICYLATE CALCIUM
     Route: 065
  795. AMINOSALICYLATE CALCIUM [Suspect]
     Active Substance: AMINOSALICYLATE CALCIUM
     Route: 065
  796. AMINOSALICYLATE CALCIUM [Suspect]
     Active Substance: AMINOSALICYLATE CALCIUM
  797. MINERALS\VITAMINS [Suspect]
     Active Substance: MINERALS\VITAMINS
     Indication: Rheumatoid arthritis
  798. MINERALS\VITAMINS [Suspect]
     Active Substance: MINERALS\VITAMINS
     Route: 065
  799. MINERALS\VITAMINS [Suspect]
     Active Substance: MINERALS\VITAMINS
     Route: 065
  800. MINERALS\VITAMINS [Suspect]
     Active Substance: MINERALS\VITAMINS
  801. CERTOLIZUMAB PEGOL [Suspect]
     Active Substance: CERTOLIZUMAB PEGOL
     Indication: Product used for unknown indication
  802. CERTOLIZUMAB PEGOL [Suspect]
     Active Substance: CERTOLIZUMAB PEGOL
  803. CERTOLIZUMAB PEGOL [Suspect]
     Active Substance: CERTOLIZUMAB PEGOL
     Route: 065
  804. CERTOLIZUMAB PEGOL [Suspect]
     Active Substance: CERTOLIZUMAB PEGOL
     Route: 065
  805. CERTOLIZUMAB PEGOL [Suspect]
     Active Substance: CERTOLIZUMAB PEGOL
  806. CERTOLIZUMAB PEGOL [Suspect]
     Active Substance: CERTOLIZUMAB PEGOL
  807. CERTOLIZUMAB PEGOL [Suspect]
     Active Substance: CERTOLIZUMAB PEGOL
     Route: 058
  808. CERTOLIZUMAB PEGOL [Suspect]
     Active Substance: CERTOLIZUMAB PEGOL
     Route: 058
  809. CETIRIZINE HYDROCHLORIDE\PSEUDOEPHEDRINE HYDROCHLORIDE [Suspect]
     Active Substance: CETIRIZINE HYDROCHLORIDE\PSEUDOEPHEDRINE HYDROCHLORIDE
     Indication: Rheumatoid arthritis
  810. CETIRIZINE HYDROCHLORIDE\PSEUDOEPHEDRINE HYDROCHLORIDE [Suspect]
     Active Substance: CETIRIZINE HYDROCHLORIDE\PSEUDOEPHEDRINE HYDROCHLORIDE
     Route: 065
  811. CETIRIZINE HYDROCHLORIDE\PSEUDOEPHEDRINE HYDROCHLORIDE [Suspect]
     Active Substance: CETIRIZINE HYDROCHLORIDE\PSEUDOEPHEDRINE HYDROCHLORIDE
     Route: 065
  812. CETIRIZINE HYDROCHLORIDE\PSEUDOEPHEDRINE HYDROCHLORIDE [Suspect]
     Active Substance: CETIRIZINE HYDROCHLORIDE\PSEUDOEPHEDRINE HYDROCHLORIDE
  813. CHLORHEXIDINE [Suspect]
     Active Substance: CHLORHEXIDINE
     Indication: Product used for unknown indication
  814. CHLORHEXIDINE [Suspect]
     Active Substance: CHLORHEXIDINE
     Route: 061
  815. CHLORHEXIDINE [Suspect]
     Active Substance: CHLORHEXIDINE
     Route: 061
  816. CHLORHEXIDINE [Suspect]
     Active Substance: CHLORHEXIDINE
  817. CHLORHEXIDINE [Suspect]
     Active Substance: CHLORHEXIDINE
  818. CHLORHEXIDINE [Suspect]
     Active Substance: CHLORHEXIDINE
     Route: 065
  819. CHLORHEXIDINE [Suspect]
     Active Substance: CHLORHEXIDINE
  820. CHLORHEXIDINE [Suspect]
     Active Substance: CHLORHEXIDINE
     Route: 065
  821. CHLORHEXIDINE [Suspect]
     Active Substance: CHLORHEXIDINE
     Route: 002
  822. CHLORHEXIDINE [Suspect]
     Active Substance: CHLORHEXIDINE
     Route: 002
  823. CHLORHEXIDINE [Suspect]
     Active Substance: CHLORHEXIDINE
  824. CHLORHEXIDINE [Suspect]
     Active Substance: CHLORHEXIDINE
  825. CHLORHEXIDINE\SODIUM FLUORIDE\TRICLOSAN\ZINC CHLORIDE [Suspect]
     Active Substance: CHLORHEXIDINE\SODIUM FLUORIDE\TRICLOSAN\ZINC CHLORIDE
     Indication: Product used for unknown indication
  826. CHLORHEXIDINE\SODIUM FLUORIDE\TRICLOSAN\ZINC CHLORIDE [Suspect]
     Active Substance: CHLORHEXIDINE\SODIUM FLUORIDE\TRICLOSAN\ZINC CHLORIDE
     Route: 065
  827. CHLORHEXIDINE\SODIUM FLUORIDE\TRICLOSAN\ZINC CHLORIDE [Suspect]
     Active Substance: CHLORHEXIDINE\SODIUM FLUORIDE\TRICLOSAN\ZINC CHLORIDE
     Route: 065
  828. CHLORHEXIDINE\SODIUM FLUORIDE\TRICLOSAN\ZINC CHLORIDE [Suspect]
     Active Substance: CHLORHEXIDINE\SODIUM FLUORIDE\TRICLOSAN\ZINC CHLORIDE
  829. CORTISONE [Suspect]
     Active Substance: CORTISONE
     Indication: Rheumatoid arthritis
  830. CORTISONE [Suspect]
     Active Substance: CORTISONE
     Route: 065
  831. CORTISONE [Suspect]
     Active Substance: CORTISONE
     Route: 065
  832. CORTISONE [Suspect]
     Active Substance: CORTISONE
  833. CORTISONE ACETATE\DIPHENHYDRMINE HYDROCHLORIDE\SULFISOMIDINE [Suspect]
     Active Substance: CORTISONE ACETATE\DIPHENHYDRAMINE HYDROCHLORIDE\SULFISOMIDINE
     Indication: Rheumatoid arthritis
  834. CORTISONE ACETATE\DIPHENHYDRMINE HYDROCHLORIDE\SULFISOMIDINE [Suspect]
     Active Substance: CORTISONE ACETATE\DIPHENHYDRAMINE HYDROCHLORIDE\SULFISOMIDINE
     Route: 065
  835. CORTISONE ACETATE\DIPHENHYDRMINE HYDROCHLORIDE\SULFISOMIDINE [Suspect]
     Active Substance: CORTISONE ACETATE\DIPHENHYDRAMINE HYDROCHLORIDE\SULFISOMIDINE
     Route: 065
  836. CORTISONE ACETATE\DIPHENHYDRMINE HYDROCHLORIDE\SULFISOMIDINE [Suspect]
     Active Substance: CORTISONE ACETATE\DIPHENHYDRAMINE HYDROCHLORIDE\SULFISOMIDINE
  837. DESOXIMETASONE [Suspect]
     Active Substance: DESOXIMETASONE
     Indication: Rheumatoid arthritis
     Route: 048
  838. DESOXIMETASONE [Suspect]
     Active Substance: DESOXIMETASONE
  839. DESOXIMETASONE [Suspect]
     Active Substance: DESOXIMETASONE
  840. DESOXIMETASONE [Suspect]
     Active Substance: DESOXIMETASONE
     Route: 048
  841. DESOXIMETASONE [Suspect]
     Active Substance: DESOXIMETASONE
     Route: 065
  842. DESOXIMETASONE [Suspect]
     Active Substance: DESOXIMETASONE
  843. DESOXIMETASONE [Suspect]
     Active Substance: DESOXIMETASONE
  844. DESOXIMETASONE [Suspect]
     Active Substance: DESOXIMETASONE
     Route: 065
  845. DESOXIMETASONE [Suspect]
     Active Substance: DESOXIMETASONE
     Route: 048
  846. DESOXIMETASONE [Suspect]
     Active Substance: DESOXIMETASONE
     Route: 048
  847. DESOXIMETASONE [Suspect]
     Active Substance: DESOXIMETASONE
  848. DESOXIMETASONE [Suspect]
     Active Substance: DESOXIMETASONE
  849. FLUMETHASONE PIVALATE [Suspect]
     Active Substance: FLUMETHASONE PIVALATE
     Indication: Product used for unknown indication
  850. FLUMETHASONE PIVALATE [Suspect]
     Active Substance: FLUMETHASONE PIVALATE
     Route: 065
  851. FLUMETHASONE PIVALATE [Suspect]
     Active Substance: FLUMETHASONE PIVALATE
     Route: 065
  852. FLUMETHASONE PIVALATE [Suspect]
     Active Substance: FLUMETHASONE PIVALATE
  853. FLUMETHASONE\SALICYLIC ACID [Suspect]
     Active Substance: FLUMETHASONE\SALICYLIC ACID
     Indication: Product used for unknown indication
  854. FLUMETHASONE\SALICYLIC ACID [Suspect]
     Active Substance: FLUMETHASONE\SALICYLIC ACID
     Route: 065
  855. FLUMETHASONE\SALICYLIC ACID [Suspect]
     Active Substance: FLUMETHASONE\SALICYLIC ACID
     Route: 065
  856. FLUMETHASONE\SALICYLIC ACID [Suspect]
     Active Substance: FLUMETHASONE\SALICYLIC ACID
  857. FOLIC ACID [Suspect]
     Active Substance: FOLIC ACID
     Indication: Rheumatoid arthritis
  858. FOLIC ACID [Suspect]
     Active Substance: FOLIC ACID
  859. FOLIC ACID [Suspect]
     Active Substance: FOLIC ACID
     Route: 065
  860. FOLIC ACID [Suspect]
     Active Substance: FOLIC ACID
     Route: 065
  861. FOLIC ACID [Suspect]
     Active Substance: FOLIC ACID
  862. FOLIC ACID [Suspect]
     Active Substance: FOLIC ACID
  863. FOLIC ACID [Suspect]
     Active Substance: FOLIC ACID
     Route: 065
  864. FOLIC ACID [Suspect]
     Active Substance: FOLIC ACID
     Route: 065
  865. FOLIC ACID [Suspect]
     Active Substance: FOLIC ACID
  866. FOLIC ACID [Suspect]
     Active Substance: FOLIC ACID
     Route: 065
  867. FOLIC ACID [Suspect]
     Active Substance: FOLIC ACID
  868. FOLIC ACID [Suspect]
     Active Substance: FOLIC ACID
     Route: 065
  869. FOLIC ACID [Suspect]
     Active Substance: FOLIC ACID
  870. FOLIC ACID [Suspect]
     Active Substance: FOLIC ACID
  871. FOLIC ACID [Suspect]
     Active Substance: FOLIC ACID
     Route: 065
  872. FOLIC ACID [Suspect]
     Active Substance: FOLIC ACID
     Route: 065
  873. FOLIC ACID [Suspect]
     Active Substance: FOLIC ACID
  874. FOLIC ACID [Suspect]
     Active Substance: FOLIC ACID
  875. FOLIC ACID [Suspect]
     Active Substance: FOLIC ACID
     Route: 065
  876. FOLIC ACID [Suspect]
     Active Substance: FOLIC ACID
     Route: 065
  877. FOLIC ACID [Suspect]
     Active Substance: FOLIC ACID
  878. FOLIC ACID [Suspect]
     Active Substance: FOLIC ACID
  879. FOLIC ACID [Suspect]
     Active Substance: FOLIC ACID
     Route: 065
  880. FOLIC ACID [Suspect]
     Active Substance: FOLIC ACID
     Route: 065
  881. FOLIC ACID [Suspect]
     Active Substance: FOLIC ACID
  882. FOLIC ACID [Suspect]
     Active Substance: FOLIC ACID
  883. FOLIC ACID [Suspect]
     Active Substance: FOLIC ACID
     Route: 065
  884. FOLIC ACID [Suspect]
     Active Substance: FOLIC ACID
     Route: 065
  885. FOSAMAX [Suspect]
     Active Substance: ALENDRONATE SODIUM
     Indication: Rheumatoid arthritis
  886. FOSAMAX [Suspect]
     Active Substance: ALENDRONATE SODIUM
     Route: 048
  887. FOSAMAX [Suspect]
     Active Substance: ALENDRONATE SODIUM
     Route: 048
  888. FOSAMAX [Suspect]
     Active Substance: ALENDRONATE SODIUM
  889. FOSAMAX [Suspect]
     Active Substance: ALENDRONATE SODIUM
     Indication: Rheumatoid arthritis
  890. FOSAMAX [Suspect]
     Active Substance: ALENDRONATE SODIUM
     Route: 016
  891. FOSAMAX [Suspect]
     Active Substance: ALENDRONATE SODIUM
     Route: 016
  892. FOSAMAX [Suspect]
     Active Substance: ALENDRONATE SODIUM
  893. HYDROCORTISONE\NEOMYCIN\NITROFURAZONE\RETINOL\THYMOL\TYROTHRICIN [Suspect]
     Active Substance: HYDROCORTISONE\NEOMYCIN\NITROFURAZONE\RETINOL\THYMOL\TYROTHRICIN
     Indication: Rheumatoid arthritis
  894. HYDROCORTISONE\NEOMYCIN\NITROFURAZONE\RETINOL\THYMOL\TYROTHRICIN [Suspect]
     Active Substance: HYDROCORTISONE\NEOMYCIN\NITROFURAZONE\RETINOL\THYMOL\TYROTHRICIN
  895. HYDROCORTISONE\NEOMYCIN\NITROFURAZONE\RETINOL\THYMOL\TYROTHRICIN [Suspect]
     Active Substance: HYDROCORTISONE\NEOMYCIN\NITROFURAZONE\RETINOL\THYMOL\TYROTHRICIN
     Route: 048
  896. HYDROCORTISONE\NEOMYCIN\NITROFURAZONE\RETINOL\THYMOL\TYROTHRICIN [Suspect]
     Active Substance: HYDROCORTISONE\NEOMYCIN\NITROFURAZONE\RETINOL\THYMOL\TYROTHRICIN
     Route: 048
  897. HYDROCORTISONE\NEOMYCIN\NITROFURAZONE\RETINOL\THYMOL\TYROTHRICIN [Suspect]
     Active Substance: HYDROCORTISONE\NEOMYCIN\NITROFURAZONE\RETINOL\THYMOL\TYROTHRICIN
  898. HYDROCORTISONE\NEOMYCIN\NITROFURAZONE\RETINOL\THYMOL\TYROTHRICIN [Suspect]
     Active Substance: HYDROCORTISONE\NEOMYCIN\NITROFURAZONE\RETINOL\THYMOL\TYROTHRICIN
  899. HYDROCORTISONE\NEOMYCIN\NITROFURAZONE\RETINOL\THYMOL\TYROTHRICIN [Suspect]
     Active Substance: HYDROCORTISONE\NEOMYCIN\NITROFURAZONE\RETINOL\THYMOL\TYROTHRICIN
     Route: 048
  900. HYDROCORTISONE\NEOMYCIN\NITROFURAZONE\RETINOL\THYMOL\TYROTHRICIN [Suspect]
     Active Substance: HYDROCORTISONE\NEOMYCIN\NITROFURAZONE\RETINOL\THYMOL\TYROTHRICIN
     Route: 048
  901. METHOTREXATE [Suspect]
     Active Substance: METHOTREXATE
     Indication: Rheumatoid arthritis
  902. METHOTREXATE [Suspect]
     Active Substance: METHOTREXATE
     Route: 058
  903. METHOTREXATE [Suspect]
     Active Substance: METHOTREXATE
     Route: 058
  904. METHOTREXATE [Suspect]
     Active Substance: METHOTREXATE
  905. METHOTREXATE [Suspect]
     Active Substance: METHOTREXATE
     Indication: Rheumatoid arthritis
  906. METHOTREXATE [Suspect]
     Active Substance: METHOTREXATE
  907. METHOTREXATE [Suspect]
     Active Substance: METHOTREXATE
     Route: 016
  908. METHOTREXATE [Suspect]
     Active Substance: METHOTREXATE
     Route: 016
  909. METHOTREXATE [Suspect]
     Active Substance: METHOTREXATE
     Route: 058
  910. METHOTREXATE [Suspect]
     Active Substance: METHOTREXATE
     Route: 058
  911. METHOTREXATE [Suspect]
     Active Substance: METHOTREXATE
  912. METHOTREXATE [Suspect]
     Active Substance: METHOTREXATE
  913. METHOTREXATE [Suspect]
     Active Substance: METHOTREXATE
     Route: 048
  914. METHOTREXATE [Suspect]
     Active Substance: METHOTREXATE
  915. METHOTREXATE [Suspect]
     Active Substance: METHOTREXATE
  916. METHOTREXATE [Suspect]
     Active Substance: METHOTREXATE
     Route: 048
  917. METHOTREXATE [Suspect]
     Active Substance: METHOTREXATE
     Route: 065
  918. METHOTREXATE [Suspect]
     Active Substance: METHOTREXATE
     Route: 065
  919. METHOTREXATE [Suspect]
     Active Substance: METHOTREXATE
  920. METHOTREXATE [Suspect]
     Active Substance: METHOTREXATE
  921. METHOTREXATE [Suspect]
     Active Substance: METHOTREXATE
     Route: 065
  922. METHOTREXATE [Suspect]
     Active Substance: METHOTREXATE
  923. METHOTREXATE [Suspect]
     Active Substance: METHOTREXATE
  924. METHOTREXATE [Suspect]
     Active Substance: METHOTREXATE
     Route: 065
  925. METHOTREXATE [Suspect]
     Active Substance: METHOTREXATE
     Dosage: 20 MILLIGRAM, QD (1 EVERY 1 DAYS)
     Route: 065
  926. METHOTREXATE [Suspect]
     Active Substance: METHOTREXATE
     Dosage: 20 MILLIGRAM, QD (1 EVERY 1 DAYS)
     Route: 065
  927. METHOTREXATE [Suspect]
     Active Substance: METHOTREXATE
     Dosage: 20 MILLIGRAM, QD (1 EVERY 1 DAYS)
  928. METHOTREXATE [Suspect]
     Active Substance: METHOTREXATE
     Dosage: 20 MILLIGRAM, QD (1 EVERY 1 DAYS)
  929. METHOTREXATE [Suspect]
     Active Substance: METHOTREXATE
     Route: 048
  930. METHOTREXATE [Suspect]
     Active Substance: METHOTREXATE
  931. METHOTREXATE [Suspect]
     Active Substance: METHOTREXATE
  932. METHOTREXATE [Suspect]
     Active Substance: METHOTREXATE
     Route: 048
  933. METHOTREXATE [Suspect]
     Active Substance: METHOTREXATE
  934. METHOTREXATE [Suspect]
     Active Substance: METHOTREXATE
  935. METHOTREXATE [Suspect]
     Active Substance: METHOTREXATE
     Route: 048
  936. METHOTREXATE [Suspect]
     Active Substance: METHOTREXATE
     Route: 048
  937. MESALAMINE [Suspect]
     Active Substance: MESALAMINE
     Indication: Crohn^s disease
  938. MESALAMINE [Suspect]
     Active Substance: MESALAMINE
     Route: 065
  939. MESALAMINE [Suspect]
     Active Substance: MESALAMINE
     Route: 065
  940. MESALAMINE [Suspect]
     Active Substance: MESALAMINE
  941. MINOCYCLINE HYDROCHLORIDE [Suspect]
     Active Substance: MINOCYCLINE HYDROCHLORIDE
     Indication: Rheumatoid arthritis
  942. MINOCYCLINE HYDROCHLORIDE [Suspect]
     Active Substance: MINOCYCLINE HYDROCHLORIDE
     Route: 065
  943. MINOCYCLINE HYDROCHLORIDE [Suspect]
     Active Substance: MINOCYCLINE HYDROCHLORIDE
     Route: 065
  944. MINOCYCLINE HYDROCHLORIDE [Suspect]
     Active Substance: MINOCYCLINE HYDROCHLORIDE
  945. PANTOPRAZOLE [Suspect]
     Active Substance: PANTOPRAZOLE
     Indication: Dyspepsia
  946. PANTOPRAZOLE [Suspect]
     Active Substance: PANTOPRAZOLE
     Route: 005
  947. PANTOPRAZOLE [Suspect]
     Active Substance: PANTOPRAZOLE
     Route: 005
  948. PANTOPRAZOLE [Suspect]
     Active Substance: PANTOPRAZOLE
  949. PLAQUENIL [Suspect]
     Active Substance: HYDROXYCHLOROQUINE SULFATE
     Indication: Rheumatoid arthritis
  950. PLAQUENIL [Suspect]
     Active Substance: HYDROXYCHLOROQUINE SULFATE
     Route: 065
  951. PLAQUENIL [Suspect]
     Active Substance: HYDROXYCHLOROQUINE SULFATE
     Route: 065
  952. PLAQUENIL [Suspect]
     Active Substance: HYDROXYCHLOROQUINE SULFATE
  953. PREDNISONE [Suspect]
     Active Substance: PREDNISONE
     Indication: Rheumatoid arthritis
  954. PREDNISONE [Suspect]
     Active Substance: PREDNISONE
     Indication: Condition aggravated
  955. PREDNISONE [Suspect]
     Active Substance: PREDNISONE
     Route: 065
  956. PREDNISONE [Suspect]
     Active Substance: PREDNISONE
     Route: 065
  957. PREDNISONE [Suspect]
     Active Substance: PREDNISONE
  958. PREDNISONE [Suspect]
     Active Substance: PREDNISONE
  959. PREDNISONE [Suspect]
     Active Substance: PREDNISONE
     Route: 048
  960. PREDNISONE [Suspect]
     Active Substance: PREDNISONE
     Route: 048
  961. PREDNISONE [Suspect]
     Active Substance: PREDNISONE
  962. PREDNISONE [Suspect]
     Active Substance: PREDNISONE
     Route: 048
  963. PREDNISONE [Suspect]
     Active Substance: PREDNISONE
  964. PREDNISONE [Suspect]
     Active Substance: PREDNISONE
     Route: 048
  965. PREDNISONE [Suspect]
     Active Substance: PREDNISONE
     Indication: Product used for unknown indication
     Route: 048
  966. PREDNISONE [Suspect]
     Active Substance: PREDNISONE
  967. PREDNISONE [Suspect]
     Active Substance: PREDNISONE
  968. PREDNISONE [Suspect]
     Active Substance: PREDNISONE
     Route: 048
  969. PREDNISONE [Suspect]
     Active Substance: PREDNISONE
     Route: 048
  970. PREDNISONE [Suspect]
     Active Substance: PREDNISONE
  971. PREDNISONE [Suspect]
     Active Substance: PREDNISONE
  972. PREDNISONE [Suspect]
     Active Substance: PREDNISONE
     Route: 048
  973. PREDNISONE [Suspect]
     Active Substance: PREDNISONE
  974. PREDNISONE [Suspect]
     Active Substance: PREDNISONE
  975. PREDNISONE [Suspect]
     Active Substance: PREDNISONE
     Route: 048
  976. PREDNISONE [Suspect]
     Active Substance: PREDNISONE
     Route: 048
  977. PREDNISONE [Suspect]
     Active Substance: PREDNISONE
  978. PREDNISONE [Suspect]
     Active Substance: PREDNISONE
  979. PREDNISONE [Suspect]
     Active Substance: PREDNISONE
     Route: 048
  980. PREDNISONE [Suspect]
     Active Substance: PREDNISONE
     Route: 048
  981. PSEUDOEPHEDRINE [Suspect]
     Active Substance: PSEUDOEPHEDRINE
     Indication: Rheumatoid arthritis
  982. PSEUDOEPHEDRINE [Suspect]
     Active Substance: PSEUDOEPHEDRINE
  983. PSEUDOEPHEDRINE [Suspect]
     Active Substance: PSEUDOEPHEDRINE
     Route: 065
  984. PSEUDOEPHEDRINE [Suspect]
     Active Substance: PSEUDOEPHEDRINE
     Route: 065
  985. PSEUDOEPHEDRINE [Suspect]
     Active Substance: PSEUDOEPHEDRINE
     Route: 065
  986. PSEUDOEPHEDRINE [Suspect]
     Active Substance: PSEUDOEPHEDRINE
     Route: 065
  987. PSEUDOEPHEDRINE [Suspect]
     Active Substance: PSEUDOEPHEDRINE
  988. PSEUDOEPHEDRINE [Suspect]
     Active Substance: PSEUDOEPHEDRINE
  989. PSEUDOEPHEDRINE [Suspect]
     Active Substance: PSEUDOEPHEDRINE
     Route: 065
  990. PSEUDOEPHEDRINE [Suspect]
     Active Substance: PSEUDOEPHEDRINE
  991. PSEUDOEPHEDRINE [Suspect]
     Active Substance: PSEUDOEPHEDRINE
  992. PSEUDOEPHEDRINE [Suspect]
     Active Substance: PSEUDOEPHEDRINE
     Route: 065
  993. PSEUDOEPHEDRINE [Suspect]
     Active Substance: PSEUDOEPHEDRINE
  994. PSEUDOEPHEDRINE [Suspect]
     Active Substance: PSEUDOEPHEDRINE
  995. PSEUDOEPHEDRINE [Suspect]
     Active Substance: PSEUDOEPHEDRINE
     Route: 065
  996. PSEUDOEPHEDRINE [Suspect]
     Active Substance: PSEUDOEPHEDRINE
     Route: 065
  997. QUETIAPINE FUMARATE [Suspect]
     Active Substance: QUETIAPINE FUMARATE
     Indication: Product used for unknown indication
  998. QUETIAPINE FUMARATE [Suspect]
     Active Substance: QUETIAPINE FUMARATE
     Route: 065
  999. QUETIAPINE FUMARATE [Suspect]
     Active Substance: QUETIAPINE FUMARATE
     Route: 065
  1000. QUETIAPINE FUMARATE [Suspect]
     Active Substance: QUETIAPINE FUMARATE
  1001. HYALURONIDASE (HUMAN RECOMBINANT)\RITUXIMAB [Suspect]
     Active Substance: HYALURONIDASE (HUMAN RECOMBINANT)\RITUXIMAB
     Indication: Rheumatoid arthritis
  1002. HYALURONIDASE (HUMAN RECOMBINANT)\RITUXIMAB [Suspect]
     Active Substance: HYALURONIDASE (HUMAN RECOMBINANT)\RITUXIMAB
     Route: 058
  1003. HYALURONIDASE (HUMAN RECOMBINANT)\RITUXIMAB [Suspect]
     Active Substance: HYALURONIDASE (HUMAN RECOMBINANT)\RITUXIMAB
     Route: 058
  1004. HYALURONIDASE (HUMAN RECOMBINANT)\RITUXIMAB [Suspect]
     Active Substance: HYALURONIDASE (HUMAN RECOMBINANT)\RITUXIMAB
  1005. DIETARY SUPPLEMENT\HERBALS [Suspect]
     Active Substance: DIETARY SUPPLEMENT\HERBALS
     Indication: Product used for unknown indication
  1006. DIETARY SUPPLEMENT\HERBALS [Suspect]
     Active Substance: DIETARY SUPPLEMENT\HERBALS
     Route: 065
  1007. DIETARY SUPPLEMENT\HERBALS [Suspect]
     Active Substance: DIETARY SUPPLEMENT\HERBALS
     Route: 065
  1008. DIETARY SUPPLEMENT\HERBALS [Suspect]
     Active Substance: DIETARY SUPPLEMENT\HERBALS
  1009. SOLU-MEDROL [Suspect]
     Active Substance: METHYLPREDNISOLONE SODIUM SUCCINATE
     Indication: Product used for unknown indication
  1010. SOLU-MEDROL [Suspect]
     Active Substance: METHYLPREDNISOLONE SODIUM SUCCINATE
     Route: 048
  1011. SOLU-MEDROL [Suspect]
     Active Substance: METHYLPREDNISOLONE SODIUM SUCCINATE
     Route: 048
  1012. SOLU-MEDROL [Suspect]
     Active Substance: METHYLPREDNISOLONE SODIUM SUCCINATE
  1013. SULFAMETHOXAZOLE [Suspect]
     Active Substance: SULFAMETHOXAZOLE
     Indication: Product used for unknown indication
  1014. SULFAMETHOXAZOLE [Suspect]
     Active Substance: SULFAMETHOXAZOLE
     Route: 065
  1015. SULFAMETHOXAZOLE [Suspect]
     Active Substance: SULFAMETHOXAZOLE
     Route: 065
  1016. SULFAMETHOXAZOLE [Suspect]
     Active Substance: SULFAMETHOXAZOLE
  1017. SULFASALAZINE [Suspect]
     Active Substance: SULFASALAZINE
     Indication: Rheumatoid arthritis
     Route: 058
  1018. SULFASALAZINE [Suspect]
     Active Substance: SULFASALAZINE
     Route: 058
  1019. SULFASALAZINE [Suspect]
     Active Substance: SULFASALAZINE
  1020. SULFASALAZINE [Suspect]
     Active Substance: SULFASALAZINE
  1021. SULFASALAZINE [Suspect]
     Active Substance: SULFASALAZINE
     Route: 058
  1022. SULFASALAZINE [Suspect]
     Active Substance: SULFASALAZINE
  1023. SULFASALAZINE [Suspect]
     Active Substance: SULFASALAZINE
  1024. SULFASALAZINE [Suspect]
     Active Substance: SULFASALAZINE
     Route: 058
  1025. SULFASALAZINE [Suspect]
     Active Substance: SULFASALAZINE
     Route: 058
  1026. SULFASALAZINE [Suspect]
     Active Substance: SULFASALAZINE
     Route: 058
  1027. SULFASALAZINE [Suspect]
     Active Substance: SULFASALAZINE
  1028. SULFASALAZINE [Suspect]
     Active Substance: SULFASALAZINE
  1029. SULFASALAZINE [Suspect]
     Active Substance: SULFASALAZINE
  1030. SULFASALAZINE [Suspect]
     Active Substance: SULFASALAZINE
     Route: 058
  1031. SULFASALAZINE [Suspect]
     Active Substance: SULFASALAZINE
     Route: 058
  1032. SULFASALAZINE [Suspect]
     Active Substance: SULFASALAZINE
  1033. SULFASALAZINE [Suspect]
     Active Substance: SULFASALAZINE
  1034. SULFASALAZINE [Suspect]
     Active Substance: SULFASALAZINE
  1035. SULFASALAZINE [Suspect]
     Active Substance: SULFASALAZINE
     Route: 058
  1036. SULFASALAZINE [Suspect]
     Active Substance: SULFASALAZINE
     Route: 058
  1037. SULFASALAZINE [Suspect]
     Active Substance: SULFASALAZINE
     Route: 058
  1038. SULFASALAZINE [Suspect]
     Active Substance: SULFASALAZINE
     Route: 058
  1039. SULFASALAZINE [Suspect]
     Active Substance: SULFASALAZINE
  1040. SULFASALAZINE [Suspect]
     Active Substance: SULFASALAZINE
  1041. SULFASALAZINE [Suspect]
     Active Substance: SULFASALAZINE
     Route: 058
  1042. SULFASALAZINE [Suspect]
     Active Substance: SULFASALAZINE
  1043. SULFASALAZINE [Suspect]
     Active Substance: SULFASALAZINE
  1044. SULFASALAZINE [Suspect]
     Active Substance: SULFASALAZINE
     Route: 058
  1045. SULFASALAZINE [Suspect]
     Active Substance: SULFASALAZINE
     Dosage: 1000 MILLIGRAM, BID (2 EVERY 1 DAYS)
  1046. SULFASALAZINE [Suspect]
     Active Substance: SULFASALAZINE
     Dosage: 1000 MILLIGRAM, BID (2 EVERY 1 DAYS)
  1047. SULFASALAZINE [Suspect]
     Active Substance: SULFASALAZINE
     Dosage: 1000 MILLIGRAM, BID (2 EVERY 1 DAYS)
     Route: 048
  1048. SULFASALAZINE [Suspect]
     Active Substance: SULFASALAZINE
     Dosage: 1000 MILLIGRAM, BID (2 EVERY 1 DAYS)
     Route: 048
  1049. SULFASALAZINE [Suspect]
     Active Substance: SULFASALAZINE
     Dosage: 300 MILLIGRAM, QD (1 EVERY 1 DAYS)
  1050. SULFASALAZINE [Suspect]
     Active Substance: SULFASALAZINE
     Dosage: 300 MILLIGRAM, QD (1 EVERY 1 DAYS)
     Route: 065
  1051. SULFASALAZINE [Suspect]
     Active Substance: SULFASALAZINE
     Dosage: 300 MILLIGRAM, QD (1 EVERY 1 DAYS)
  1052. SULFASALAZINE [Suspect]
     Active Substance: SULFASALAZINE
     Dosage: 300 MILLIGRAM, QD (1 EVERY 1 DAYS)
     Route: 065
  1053. TOCILIZUMAB [Suspect]
     Active Substance: TOCILIZUMAB
     Indication: Rheumatoid arthritis
  1054. TOCILIZUMAB [Suspect]
     Active Substance: TOCILIZUMAB
     Route: 042
  1055. TOCILIZUMAB [Suspect]
     Active Substance: TOCILIZUMAB
     Route: 042
  1056. TOCILIZUMAB [Suspect]
     Active Substance: TOCILIZUMAB
  1057. TOCILIZUMAB [Suspect]
     Active Substance: TOCILIZUMAB
     Indication: Rheumatoid arthritis
  1058. TOCILIZUMAB [Suspect]
     Active Substance: TOCILIZUMAB
     Route: 016
  1059. TOCILIZUMAB [Suspect]
     Active Substance: TOCILIZUMAB
     Route: 016
  1060. TOCILIZUMAB [Suspect]
     Active Substance: TOCILIZUMAB
  1061. TOFACITINIB [Suspect]
     Active Substance: TOFACITINIB
     Indication: Rheumatoid arthritis
     Dosage: 5 MILLIGRAM, BID (2 EVERY 1 DAYS)
     Route: 065
  1062. TOFACITINIB [Suspect]
     Active Substance: TOFACITINIB
     Dosage: 5 MILLIGRAM, BID (2 EVERY 1 DAYS)
  1063. TOFACITINIB [Suspect]
     Active Substance: TOFACITINIB
     Dosage: 5 MILLIGRAM, BID (2 EVERY 1 DAYS)
  1064. TOFACITINIB [Suspect]
     Active Substance: TOFACITINIB
     Dosage: 5 MILLIGRAM, BID (2 EVERY 1 DAYS)
     Route: 065
  1065. TOFACITINIB [Suspect]
     Active Substance: TOFACITINIB
     Route: 065
  1066. TOFACITINIB [Suspect]
     Active Substance: TOFACITINIB
  1067. TOFACITINIB [Suspect]
     Active Substance: TOFACITINIB
  1068. TOFACITINIB [Suspect]
     Active Substance: TOFACITINIB
     Route: 065
  1069. TOFACITINIB CITRATE [Suspect]
     Active Substance: TOFACITINIB CITRATE
     Indication: Product used for unknown indication
     Dosage: 5 MILLIGRAM, BID (2 EVERY 1 DAYS)
  1070. TOFACITINIB CITRATE [Suspect]
     Active Substance: TOFACITINIB CITRATE
     Dosage: 5 MILLIGRAM, BID (2 EVERY 1 DAYS)
     Route: 065
  1071. TOFACITINIB CITRATE [Suspect]
     Active Substance: TOFACITINIB CITRATE
     Dosage: 5 MILLIGRAM, BID (2 EVERY 1 DAYS)
     Route: 065
  1072. TOFACITINIB CITRATE [Suspect]
     Active Substance: TOFACITINIB CITRATE
     Dosage: 5 MILLIGRAM, BID (2 EVERY 1 DAYS)
  1073. USTEKINUMAB [Suspect]
     Active Substance: USTEKINUMAB
     Indication: Rheumatoid arthritis
  1074. USTEKINUMAB [Suspect]
     Active Substance: USTEKINUMAB
     Route: 042
  1075. USTEKINUMAB [Suspect]
     Active Substance: USTEKINUMAB
     Route: 042
  1076. USTEKINUMAB [Suspect]
     Active Substance: USTEKINUMAB
  1077. VITAMIN D3 [Suspect]
     Active Substance: CHOLECALCIFEROL
     Indication: Product used for unknown indication
  1078. VITAMIN D3 [Suspect]
     Active Substance: CHOLECALCIFEROL
  1079. VITAMIN D3 [Suspect]
     Active Substance: CHOLECALCIFEROL
     Route: 065
  1080. VITAMIN D3 [Suspect]
     Active Substance: CHOLECALCIFEROL
     Route: 065
  1081. VITAMIN D3 [Suspect]
     Active Substance: CHOLECALCIFEROL
  1082. VITAMIN D3 [Suspect]
     Active Substance: CHOLECALCIFEROL
  1083. VITAMIN D3 [Suspect]
     Active Substance: CHOLECALCIFEROL
     Route: 016
  1084. VITAMIN D3 [Suspect]
     Active Substance: CHOLECALCIFEROL
     Route: 016
  1085. HYALURONIDASE (HUMAN RECOMBINANT) [Suspect]
     Active Substance: HYALURONIDASE (HUMAN RECOMBINANT)
     Indication: Rheumatoid arthritis
  1086. HYALURONIDASE (HUMAN RECOMBINANT) [Suspect]
     Active Substance: HYALURONIDASE (HUMAN RECOMBINANT)
     Route: 065
  1087. HYALURONIDASE (HUMAN RECOMBINANT) [Suspect]
     Active Substance: HYALURONIDASE (HUMAN RECOMBINANT)
     Route: 065
  1088. HYALURONIDASE (HUMAN RECOMBINANT) [Suspect]
     Active Substance: HYALURONIDASE (HUMAN RECOMBINANT)
  1089. XELJANZ [Suspect]
     Active Substance: TOFACITINIB CITRATE
     Indication: Rheumatoid arthritis
     Dosage: 5 MILLIGRAM, BID (2 EVERY 1 DAYS)
  1090. XELJANZ [Suspect]
     Active Substance: TOFACITINIB CITRATE
     Dosage: 5 MILLIGRAM, BID (2 EVERY 1 DAYS)
     Route: 065
  1091. XELJANZ [Suspect]
     Active Substance: TOFACITINIB CITRATE
     Dosage: 5 MILLIGRAM, BID (2 EVERY 1 DAYS)
     Route: 065
  1092. XELJANZ [Suspect]
     Active Substance: TOFACITINIB CITRATE
     Dosage: 5 MILLIGRAM, BID (2 EVERY 1 DAYS)
  1093. ACETAMINOPHEN [Suspect]
     Active Substance: ACETAMINOPHEN
     Indication: Rheumatoid arthritis
  1094. ACETAMINOPHEN [Suspect]
     Active Substance: ACETAMINOPHEN
     Route: 065
  1095. ACETAMINOPHEN [Suspect]
     Active Substance: ACETAMINOPHEN
     Route: 065
  1096. ACETAMINOPHEN [Suspect]
     Active Substance: ACETAMINOPHEN
  1097. AIMOVIG [Suspect]
     Active Substance: ERENUMAB-AOOE
     Indication: Product used for unknown indication
  1098. AIMOVIG [Suspect]
     Active Substance: ERENUMAB-AOOE
     Route: 065
  1099. AIMOVIG [Suspect]
     Active Substance: ERENUMAB-AOOE
     Route: 065
  1100. AIMOVIG [Suspect]
     Active Substance: ERENUMAB-AOOE
  1101. ALENDRONIC ACID [Suspect]
     Active Substance: ALENDRONIC ACID
     Indication: Rheumatoid arthritis
  1102. ALENDRONIC ACID [Suspect]
     Active Substance: ALENDRONIC ACID
  1103. ALENDRONIC ACID [Suspect]
     Active Substance: ALENDRONIC ACID
     Route: 016
  1104. ALENDRONIC ACID [Suspect]
     Active Substance: ALENDRONIC ACID
     Route: 016
  1105. ALENDRONIC ACID [Suspect]
     Active Substance: ALENDRONIC ACID
  1106. ALENDRONIC ACID [Suspect]
     Active Substance: ALENDRONIC ACID
  1107. ALENDRONIC ACID [Suspect]
     Active Substance: ALENDRONIC ACID
     Route: 065
  1108. ALENDRONIC ACID [Suspect]
     Active Substance: ALENDRONIC ACID
     Route: 065
  1109. ALFACALCIDOL [Suspect]
     Active Substance: ALFACALCIDOL
     Indication: Product used for unknown indication
  1110. ALFACALCIDOL [Suspect]
     Active Substance: ALFACALCIDOL
     Route: 065
  1111. ALFACALCIDOL [Suspect]
     Active Substance: ALFACALCIDOL
     Route: 065
  1112. ALFACALCIDOL [Suspect]
     Active Substance: ALFACALCIDOL
  1113. ATOMOXETINE [Suspect]
     Active Substance: ATOMOXETINE
     Indication: Product used for unknown indication
  1114. ATOMOXETINE [Suspect]
     Active Substance: ATOMOXETINE
     Route: 065
  1115. ATOMOXETINE [Suspect]
     Active Substance: ATOMOXETINE
     Route: 065
  1116. ATOMOXETINE [Suspect]
     Active Substance: ATOMOXETINE
  1117. AZATHIOPRINE [Suspect]
     Active Substance: AZATHIOPRINE
     Indication: Rheumatoid arthritis
  1118. AZATHIOPRINE [Suspect]
     Active Substance: AZATHIOPRINE
  1119. AZATHIOPRINE [Suspect]
     Active Substance: AZATHIOPRINE
     Route: 065
  1120. AZATHIOPRINE [Suspect]
     Active Substance: AZATHIOPRINE
     Route: 065
  1121. AZATHIOPRINE [Suspect]
     Active Substance: AZATHIOPRINE
  1122. AZATHIOPRINE [Suspect]
     Active Substance: AZATHIOPRINE
  1123. AZATHIOPRINE [Suspect]
     Active Substance: AZATHIOPRINE
     Route: 016
  1124. AZATHIOPRINE [Suspect]
     Active Substance: AZATHIOPRINE
     Route: 016
  1125. AZATHIOPRINE [Suspect]
     Active Substance: AZATHIOPRINE
  1126. AZATHIOPRINE [Suspect]
     Active Substance: AZATHIOPRINE
     Route: 048
  1127. AZATHIOPRINE [Suspect]
     Active Substance: AZATHIOPRINE
  1128. AZATHIOPRINE [Suspect]
     Active Substance: AZATHIOPRINE
     Route: 048
  1129. BERINERT [Suspect]
     Active Substance: HUMAN C1-ESTERASE INHIBITOR
     Indication: Product used for unknown indication
  1130. BERINERT [Suspect]
     Active Substance: HUMAN C1-ESTERASE INHIBITOR
     Route: 065
  1131. BERINERT [Suspect]
     Active Substance: HUMAN C1-ESTERASE INHIBITOR
     Route: 065
  1132. BERINERT [Suspect]
     Active Substance: HUMAN C1-ESTERASE INHIBITOR
  1133. BETAMETHASONE [Suspect]
     Active Substance: BETAMETHASONE
     Indication: Product used for unknown indication
  1134. BETAMETHASONE [Suspect]
     Active Substance: BETAMETHASONE
     Route: 065
  1135. BETAMETHASONE [Suspect]
     Active Substance: BETAMETHASONE
     Route: 065
  1136. BETAMETHASONE [Suspect]
     Active Substance: BETAMETHASONE
  1137. BOTULINUM TOXIN TYPE A [Suspect]
     Active Substance: BOTULINUM TOXIN TYPE A
     Indication: Product used for unknown indication
  1138. BOTULINUM TOXIN TYPE A [Suspect]
     Active Substance: BOTULINUM TOXIN TYPE A
     Route: 030
  1139. BOTULINUM TOXIN TYPE A [Suspect]
     Active Substance: BOTULINUM TOXIN TYPE A
     Route: 030
  1140. BOTULINUM TOXIN TYPE A [Suspect]
     Active Substance: BOTULINUM TOXIN TYPE A
  1141. BUPIVACAINE HYDROCHLORIDE [Suspect]
     Active Substance: BUPIVACAINE HYDROCHLORIDE
     Indication: Rheumatoid arthritis
  1142. BUPIVACAINE HYDROCHLORIDE [Suspect]
     Active Substance: BUPIVACAINE HYDROCHLORIDE
     Route: 065
  1143. BUPIVACAINE HYDROCHLORIDE [Suspect]
     Active Substance: BUPIVACAINE HYDROCHLORIDE
     Route: 065
  1144. BUPIVACAINE HYDROCHLORIDE [Suspect]
     Active Substance: BUPIVACAINE HYDROCHLORIDE
  1145. BUPRENORPHINE [Suspect]
     Active Substance: BUPRENORPHINE
     Indication: Product used for unknown indication
  1146. BUPRENORPHINE [Suspect]
     Active Substance: BUPRENORPHINE
     Route: 065
  1147. BUPRENORPHINE [Suspect]
     Active Substance: BUPRENORPHINE
     Route: 065
  1148. BUPRENORPHINE [Suspect]
     Active Substance: BUPRENORPHINE
  1149. CANDESARTAN [Suspect]
     Active Substance: CANDESARTAN
     Indication: Rheumatoid arthritis
  1150. CANDESARTAN [Suspect]
     Active Substance: CANDESARTAN
     Indication: Migraine
     Route: 065
  1151. CANDESARTAN [Suspect]
     Active Substance: CANDESARTAN
     Route: 065
  1152. CANDESARTAN [Suspect]
     Active Substance: CANDESARTAN
  1153. CETIRIZINE [Suspect]
     Active Substance: CETIRIZINE HYDROCHLORIDE
     Indication: Rheumatoid arthritis
  1154. CETIRIZINE [Suspect]
     Active Substance: CETIRIZINE HYDROCHLORIDE
     Route: 048
  1155. CETIRIZINE [Suspect]
     Active Substance: CETIRIZINE HYDROCHLORIDE
     Route: 048
  1156. CETIRIZINE [Suspect]
     Active Substance: CETIRIZINE HYDROCHLORIDE
  1157. CORTISONE [Suspect]
     Active Substance: CORTISONE
     Indication: Rheumatoid arthritis
  1158. CORTISONE [Suspect]
     Active Substance: CORTISONE
     Route: 065
  1159. CORTISONE [Suspect]
     Active Substance: CORTISONE
     Route: 065
  1160. CORTISONE [Suspect]
     Active Substance: CORTISONE
  1161. CYCLOBENZAPRINE [Suspect]
     Active Substance: CYCLOBENZAPRINE
     Indication: Product used for unknown indication
     Dosage: 1 DOSAGE FORM, QD (1 EVERY 1 DAYS)
  1162. CYCLOBENZAPRINE [Suspect]
     Active Substance: CYCLOBENZAPRINE
     Dosage: 1 DOSAGE FORM, QD (1 EVERY 1 DAYS)
     Route: 065
  1163. CYCLOBENZAPRINE [Suspect]
     Active Substance: CYCLOBENZAPRINE
     Dosage: 1 DOSAGE FORM, QD (1 EVERY 1 DAYS)
     Route: 065
  1164. CYCLOBENZAPRINE [Suspect]
     Active Substance: CYCLOBENZAPRINE
     Dosage: 1 DOSAGE FORM, QD (1 EVERY 1 DAYS)
  1165. DOMPERIDONE [Suspect]
     Active Substance: DOMPERIDONE
     Indication: Product used for unknown indication
  1166. DOMPERIDONE [Suspect]
     Active Substance: DOMPERIDONE
     Route: 065
  1167. DOMPERIDONE [Suspect]
     Active Substance: DOMPERIDONE
     Route: 065
  1168. DOMPERIDONE [Suspect]
     Active Substance: DOMPERIDONE
  1169. DOXYCYCLINE HYCLATE [Suspect]
     Active Substance: DOXYCYCLINE HYCLATE
     Indication: Product used for unknown indication
  1170. DOXYCYCLINE HYCLATE [Suspect]
     Active Substance: DOXYCYCLINE HYCLATE
     Route: 065
  1171. DOXYCYCLINE HYCLATE [Suspect]
     Active Substance: DOXYCYCLINE HYCLATE
     Route: 065
  1172. DOXYCYCLINE HYCLATE [Suspect]
     Active Substance: DOXYCYCLINE HYCLATE
  1173. ERGOCALCIFEROL [Suspect]
     Active Substance: ERGOCALCIFEROL
     Indication: Product used for unknown indication
  1174. ERGOCALCIFEROL [Suspect]
     Active Substance: ERGOCALCIFEROL
     Route: 065
  1175. ERGOCALCIFEROL [Suspect]
     Active Substance: ERGOCALCIFEROL
     Route: 065
  1176. ERGOCALCIFEROL [Suspect]
     Active Substance: ERGOCALCIFEROL
  1177. ETANERCEPT [Suspect]
     Active Substance: ETANERCEPT
     Indication: Rheumatoid arthritis
  1178. ETANERCEPT [Suspect]
     Active Substance: ETANERCEPT
  1179. ETANERCEPT [Suspect]
     Active Substance: ETANERCEPT
     Route: 058
  1180. ETANERCEPT [Suspect]
     Active Substance: ETANERCEPT
     Route: 058
  1181. ETANERCEPT [Suspect]
     Active Substance: ETANERCEPT
  1182. ETANERCEPT [Suspect]
     Active Substance: ETANERCEPT
  1183. ETANERCEPT [Suspect]
     Active Substance: ETANERCEPT
     Route: 058
  1184. ETANERCEPT [Suspect]
     Active Substance: ETANERCEPT
     Route: 058
  1185. FETZIMA [Suspect]
     Active Substance: LEVOMILNACIPRAN HYDROCHLORIDE
     Indication: Product used for unknown indication
  1186. FETZIMA [Suspect]
     Active Substance: LEVOMILNACIPRAN HYDROCHLORIDE
     Route: 065
  1187. FETZIMA [Suspect]
     Active Substance: LEVOMILNACIPRAN HYDROCHLORIDE
     Route: 065
  1188. FETZIMA [Suspect]
     Active Substance: LEVOMILNACIPRAN HYDROCHLORIDE
  1189. FINACEA [Suspect]
     Active Substance: AZELAIC ACID
     Indication: Product used for unknown indication
  1190. FINACEA [Suspect]
     Active Substance: AZELAIC ACID
     Route: 065
  1191. FINACEA [Suspect]
     Active Substance: AZELAIC ACID
     Route: 065
  1192. FINACEA [Suspect]
     Active Substance: AZELAIC ACID
  1193. FLUTICASONE [Suspect]
     Active Substance: FLUTICASONE
     Indication: Product used for unknown indication
  1194. FLUTICASONE [Suspect]
     Active Substance: FLUTICASONE
     Route: 065
  1195. FLUTICASONE [Suspect]
     Active Substance: FLUTICASONE
     Route: 065
  1196. FLUTICASONE [Suspect]
     Active Substance: FLUTICASONE
  1197. HYDROMORPHONE [Suspect]
     Active Substance: HYDROMORPHONE
     Indication: Product used for unknown indication
  1198. HYDROMORPHONE [Suspect]
     Active Substance: HYDROMORPHONE
     Route: 065
  1199. HYDROMORPHONE [Suspect]
     Active Substance: HYDROMORPHONE
     Route: 065
  1200. HYDROMORPHONE [Suspect]
     Active Substance: HYDROMORPHONE
  1201. HYDROXYCHLOROQUINE [Suspect]
     Active Substance: HYDROXYCHLOROQUINE
     Indication: Rheumatoid arthritis
     Dosage: 400 MILLIGRAM, QD (1 EVERY 1 DAYS)
  1202. HYDROXYCHLOROQUINE [Suspect]
     Active Substance: HYDROXYCHLOROQUINE
     Indication: Systemic lupus erythematosus
     Dosage: 400 MILLIGRAM, QD (1 EVERY 1 DAYS)
     Route: 065
  1203. HYDROXYCHLOROQUINE [Suspect]
     Active Substance: HYDROXYCHLOROQUINE
     Dosage: 400 MILLIGRAM, QD (1 EVERY 1 DAYS)
     Route: 065
  1204. HYDROXYCHLOROQUINE [Suspect]
     Active Substance: HYDROXYCHLOROQUINE
     Dosage: 400 MILLIGRAM, QD (1 EVERY 1 DAYS)
  1205. LAMOTRIGINE [Suspect]
     Active Substance: LAMOTRIGINE
     Indication: Product used for unknown indication
  1206. LAMOTRIGINE [Suspect]
     Active Substance: LAMOTRIGINE
  1207. LAMOTRIGINE [Suspect]
     Active Substance: LAMOTRIGINE
     Route: 048
  1208. LAMOTRIGINE [Suspect]
     Active Substance: LAMOTRIGINE
     Route: 048
  1209. LAMOTRIGINE [Suspect]
     Active Substance: LAMOTRIGINE
  1210. LAMOTRIGINE [Suspect]
     Active Substance: LAMOTRIGINE
  1211. LAMOTRIGINE [Suspect]
     Active Substance: LAMOTRIGINE
     Route: 048
  1212. LAMOTRIGINE [Suspect]
     Active Substance: LAMOTRIGINE
     Route: 048
  1213. LEFLUNOMIDE [Suspect]
     Active Substance: LEFLUNOMIDE
     Indication: Rheumatoid arthritis
     Dosage: 20 MILLIGRAM, QD (1 EVERY 1 DAYS)
  1214. LEFLUNOMIDE [Suspect]
     Active Substance: LEFLUNOMIDE
     Dosage: 20 MILLIGRAM, QD (1 EVERY 1 DAYS)
  1215. LEFLUNOMIDE [Suspect]
     Active Substance: LEFLUNOMIDE
     Dosage: 20 MILLIGRAM, QD (1 EVERY 1 DAYS)
     Route: 065
  1216. LEFLUNOMIDE [Suspect]
     Active Substance: LEFLUNOMIDE
     Dosage: 20 MILLIGRAM, QD (1 EVERY 1 DAYS)
     Route: 065
  1217. LEFLUNOMIDE [Suspect]
     Active Substance: LEFLUNOMIDE
     Dosage: 10 MILLIGRAM, QD (1 EVERY 1 DAYS)
  1218. LEFLUNOMIDE [Suspect]
     Active Substance: LEFLUNOMIDE
     Dosage: 10 MILLIGRAM, QD (1 EVERY 1 DAYS)
  1219. LEFLUNOMIDE [Suspect]
     Active Substance: LEFLUNOMIDE
     Dosage: 10 MILLIGRAM, QD (1 EVERY 1 DAYS)
     Route: 065
  1220. LEFLUNOMIDE [Suspect]
     Active Substance: LEFLUNOMIDE
     Dosage: 10 MILLIGRAM, QD (1 EVERY 1 DAYS)
     Route: 065
  1221. CLIOQUINOL\FLUMETHASONE [Suspect]
     Active Substance: CLIOQUINOL\FLUMETHASONE
     Indication: Rheumatoid arthritis
  1222. CLIOQUINOL\FLUMETHASONE [Suspect]
     Active Substance: CLIOQUINOL\FLUMETHASONE
     Route: 065
  1223. CLIOQUINOL\FLUMETHASONE [Suspect]
     Active Substance: CLIOQUINOL\FLUMETHASONE
     Route: 065
  1224. CLIOQUINOL\FLUMETHASONE [Suspect]
     Active Substance: CLIOQUINOL\FLUMETHASONE
  1225. MESALAMINE [Suspect]
     Active Substance: MESALAMINE
     Indication: Crohn^s disease
  1226. MESALAMINE [Suspect]
     Active Substance: MESALAMINE
     Route: 065
  1227. MESALAMINE [Suspect]
     Active Substance: MESALAMINE
     Route: 065
  1228. MESALAMINE [Suspect]
     Active Substance: MESALAMINE
  1229. MINOCYCLINE [Suspect]
     Active Substance: MINOCYCLINE HYDROCHLORIDE
     Indication: Rheumatoid arthritis
  1230. MINOCYCLINE [Suspect]
     Active Substance: MINOCYCLINE HYDROCHLORIDE
     Route: 065
  1231. MINOCYCLINE [Suspect]
     Active Substance: MINOCYCLINE HYDROCHLORIDE
     Route: 065
  1232. MINOCYCLINE [Suspect]
     Active Substance: MINOCYCLINE HYDROCHLORIDE
  1233. MYRBETRIQ [Suspect]
     Active Substance: MIRABEGRON
     Indication: Product used for unknown indication
     Dosage: 1 DOSAGE FORM, QD (1 EVERY 1 DAYS)
  1234. MYRBETRIQ [Suspect]
     Active Substance: MIRABEGRON
     Dosage: 1 DOSAGE FORM, QD (1 EVERY 1 DAYS)
     Route: 048
  1235. MYRBETRIQ [Suspect]
     Active Substance: MIRABEGRON
     Dosage: 1 DOSAGE FORM, QD (1 EVERY 1 DAYS)
     Route: 048
  1236. MYRBETRIQ [Suspect]
     Active Substance: MIRABEGRON
     Dosage: 1 DOSAGE FORM, QD (1 EVERY 1 DAYS)
  1237. NUCALA [Suspect]
     Active Substance: MEPOLIZUMAB
     Indication: Product used for unknown indication
  1238. NUCALA [Suspect]
     Active Substance: MEPOLIZUMAB
     Route: 065
  1239. NUCALA [Suspect]
     Active Substance: MEPOLIZUMAB
     Route: 065
  1240. NUCALA [Suspect]
     Active Substance: MEPOLIZUMAB
  1241. OTEZLA [Suspect]
     Active Substance: APREMILAST
     Indication: Product used for unknown indication
  1242. OTEZLA [Suspect]
     Active Substance: APREMILAST
  1243. OTEZLA [Suspect]
     Active Substance: APREMILAST
     Route: 065
  1244. OTEZLA [Suspect]
     Active Substance: APREMILAST
     Route: 065
  1245. OTEZLA [Suspect]
     Active Substance: APREMILAST
     Dosage: 3 MILLIGRAM, BID (2 EVERY 1 DAYS)
  1246. OTEZLA [Suspect]
     Active Substance: APREMILAST
     Dosage: 3 MILLIGRAM, BID (2 EVERY 1 DAYS)
  1247. OTEZLA [Suspect]
     Active Substance: APREMILAST
     Dosage: 3 MILLIGRAM, BID (2 EVERY 1 DAYS)
     Route: 065
  1248. OTEZLA [Suspect]
     Active Substance: APREMILAST
     Dosage: 3 MILLIGRAM, BID (2 EVERY 1 DAYS)
     Route: 065
  1249. OTEZLA [Suspect]
     Active Substance: APREMILAST
     Dosage: 3 MILLIGRAM, BID (2 EVERY 1 DAYS)
  1250. OTEZLA [Suspect]
     Active Substance: APREMILAST
     Dosage: 3 MILLIGRAM, BID (2 EVERY 1 DAYS)
     Route: 048
  1251. OTEZLA [Suspect]
     Active Substance: APREMILAST
     Dosage: 3 MILLIGRAM, BID (2 EVERY 1 DAYS)
  1252. OTEZLA [Suspect]
     Active Substance: APREMILAST
     Dosage: 3 MILLIGRAM, BID (2 EVERY 1 DAYS)
     Route: 048
  1253. PERCOCET [Suspect]
     Active Substance: ACETAMINOPHEN\OXYCODONE HYDROCHLORIDE
     Indication: Product used for unknown indication
  1254. PERCOCET [Suspect]
     Active Substance: ACETAMINOPHEN\OXYCODONE HYDROCHLORIDE
     Route: 065
  1255. PERCOCET [Suspect]
     Active Substance: ACETAMINOPHEN\OXYCODONE HYDROCHLORIDE
     Route: 065
  1256. PERCOCET [Suspect]
     Active Substance: ACETAMINOPHEN\OXYCODONE HYDROCHLORIDE
  1257. PHENYLEPHRINE HYDROCHLORIDE [Suspect]
     Active Substance: PHENYLEPHRINE HYDROCHLORIDE
     Indication: Product used for unknown indication
  1258. PHENYLEPHRINE HYDROCHLORIDE [Suspect]
     Active Substance: PHENYLEPHRINE HYDROCHLORIDE
     Route: 065
  1259. PHENYLEPHRINE HYDROCHLORIDE [Suspect]
     Active Substance: PHENYLEPHRINE HYDROCHLORIDE
     Route: 065
  1260. PHENYLEPHRINE HYDROCHLORIDE [Suspect]
     Active Substance: PHENYLEPHRINE HYDROCHLORIDE
  1261. QUETIAPINE [Suspect]
     Active Substance: QUETIAPINE
     Indication: Off label use
  1262. QUETIAPINE [Suspect]
     Active Substance: QUETIAPINE
     Indication: Medication error
     Route: 065
  1263. QUETIAPINE [Suspect]
     Active Substance: QUETIAPINE
     Route: 065
  1264. QUETIAPINE [Suspect]
     Active Substance: QUETIAPINE
  1265. RANITIDINE [Suspect]
     Active Substance: RANITIDINE
     Indication: Product used for unknown indication
  1266. RANITIDINE [Suspect]
     Active Substance: RANITIDINE
  1267. RANITIDINE [Suspect]
     Active Substance: RANITIDINE
     Route: 042
  1268. RANITIDINE [Suspect]
     Active Substance: RANITIDINE
     Route: 042
  1269. RANITIDINE [Suspect]
     Active Substance: RANITIDINE
  1270. RANITIDINE [Suspect]
     Active Substance: RANITIDINE
  1271. RANITIDINE [Suspect]
     Active Substance: RANITIDINE
     Route: 058
  1272. RANITIDINE [Suspect]
     Active Substance: RANITIDINE
     Route: 058
  1273. CETIRIZINE HYDROCHLORIDE\PSEUDOEPHEDRINE HYDROCHLORIDE [Suspect]
     Active Substance: CETIRIZINE HYDROCHLORIDE\PSEUDOEPHEDRINE HYDROCHLORIDE
     Indication: Rheumatoid arthritis
  1274. CETIRIZINE HYDROCHLORIDE\PSEUDOEPHEDRINE HYDROCHLORIDE [Suspect]
     Active Substance: CETIRIZINE HYDROCHLORIDE\PSEUDOEPHEDRINE HYDROCHLORIDE
     Route: 065
  1275. CETIRIZINE HYDROCHLORIDE\PSEUDOEPHEDRINE HYDROCHLORIDE [Suspect]
     Active Substance: CETIRIZINE HYDROCHLORIDE\PSEUDOEPHEDRINE HYDROCHLORIDE
     Route: 065
  1276. CETIRIZINE HYDROCHLORIDE\PSEUDOEPHEDRINE HYDROCHLORIDE [Suspect]
     Active Substance: CETIRIZINE HYDROCHLORIDE\PSEUDOEPHEDRINE HYDROCHLORIDE
  1277. REMICADE [Suspect]
     Active Substance: INFLIXIMAB
     Indication: Rheumatoid arthritis
     Route: 065
  1278. REMICADE [Suspect]
     Active Substance: INFLIXIMAB
  1279. REMICADE [Suspect]
     Active Substance: INFLIXIMAB
  1280. REMICADE [Suspect]
     Active Substance: INFLIXIMAB
     Route: 065
  1281. REMICADE [Suspect]
     Active Substance: INFLIXIMAB
     Route: 065
  1282. REMICADE [Suspect]
     Active Substance: INFLIXIMAB
  1283. REMICADE [Suspect]
     Active Substance: INFLIXIMAB
  1284. REMICADE [Suspect]
     Active Substance: INFLIXIMAB
     Route: 065
  1285. REMICADE [Suspect]
     Active Substance: INFLIXIMAB
  1286. REMICADE [Suspect]
     Active Substance: INFLIXIMAB
  1287. REMICADE [Suspect]
     Active Substance: INFLIXIMAB
     Route: 042
  1288. REMICADE [Suspect]
     Active Substance: INFLIXIMAB
     Route: 042
  1289. REMICADE [Suspect]
     Active Substance: INFLIXIMAB
  1290. REMICADE [Suspect]
     Active Substance: INFLIXIMAB
  1291. REMICADE [Suspect]
     Active Substance: INFLIXIMAB
     Route: 042
  1292. REMICADE [Suspect]
     Active Substance: INFLIXIMAB
     Route: 042
  1293. RITUXAN [Suspect]
     Active Substance: RITUXIMAB
     Indication: Rheumatoid arthritis
  1294. RITUXAN [Suspect]
     Active Substance: RITUXIMAB
     Route: 058
  1295. RITUXAN [Suspect]
     Active Substance: RITUXIMAB
     Route: 058
  1296. RITUXAN [Suspect]
     Active Substance: RITUXIMAB
  1297. DIETARY SUPPLEMENT\HERBALS [Suspect]
     Active Substance: DIETARY SUPPLEMENT\HERBALS
     Indication: Product used for unknown indication
  1298. DIETARY SUPPLEMENT\HERBALS [Suspect]
     Active Substance: DIETARY SUPPLEMENT\HERBALS
     Route: 048
  1299. DIETARY SUPPLEMENT\HERBALS [Suspect]
     Active Substance: DIETARY SUPPLEMENT\HERBALS
     Route: 048
  1300. DIETARY SUPPLEMENT\HERBALS [Suspect]
     Active Substance: DIETARY SUPPLEMENT\HERBALS
  1301. SIRUKUMAB [Suspect]
     Active Substance: SIRUKUMAB
     Indication: Product used for unknown indication
  1302. SIRUKUMAB [Suspect]
     Active Substance: SIRUKUMAB
     Route: 065
  1303. SIRUKUMAB [Suspect]
     Active Substance: SIRUKUMAB
     Route: 065
  1304. SIRUKUMAB [Suspect]
     Active Substance: SIRUKUMAB
  1305. TOPIRAMATE [Suspect]
     Active Substance: TOPIRAMATE
     Indication: Product used for unknown indication
     Dosage: 3 MILLIGRAM, QD (1 EVERY 1 DAYS)
  1306. TOPIRAMATE [Suspect]
     Active Substance: TOPIRAMATE
     Dosage: 3 MILLIGRAM, QD (1 EVERY 1 DAYS)
  1307. TOPIRAMATE [Suspect]
     Active Substance: TOPIRAMATE
     Dosage: 3 MILLIGRAM, QD (1 EVERY 1 DAYS)
     Route: 065
  1308. TOPIRAMATE [Suspect]
     Active Substance: TOPIRAMATE
     Dosage: 3 MILLIGRAM, QD (1 EVERY 1 DAYS)
     Route: 065
  1309. TOPIRAMATE [Suspect]
     Active Substance: TOPIRAMATE
     Dosage: 25 MILLIGRAM, QD (1 EVERY 1 DAYS)
  1310. TOPIRAMATE [Suspect]
     Active Substance: TOPIRAMATE
     Dosage: 25 MILLIGRAM, QD (1 EVERY 1 DAYS)
  1311. TOPIRAMATE [Suspect]
     Active Substance: TOPIRAMATE
     Dosage: 25 MILLIGRAM, QD (1 EVERY 1 DAYS)
     Route: 065
  1312. TOPIRAMATE [Suspect]
     Active Substance: TOPIRAMATE
     Dosage: 25 MILLIGRAM, QD (1 EVERY 1 DAYS)
     Route: 065
  1313. TRAZODONE [Suspect]
     Active Substance: TRAZODONE HYDROCHLORIDE
     Indication: Product used for unknown indication
  1314. TRAZODONE [Suspect]
     Active Substance: TRAZODONE HYDROCHLORIDE
     Route: 065
  1315. TRAZODONE [Suspect]
     Active Substance: TRAZODONE HYDROCHLORIDE
     Route: 065
  1316. TRAZODONE [Suspect]
     Active Substance: TRAZODONE HYDROCHLORIDE
  1317. TRETINOIN [Suspect]
     Active Substance: TRETINOIN
     Indication: Product used for unknown indication
  1318. TRETINOIN [Suspect]
     Active Substance: TRETINOIN
     Route: 065
  1319. TRETINOIN [Suspect]
     Active Substance: TRETINOIN
     Route: 065
  1320. TRETINOIN [Suspect]
     Active Substance: TRETINOIN
  1321. USTEKINUMAB [Suspect]
     Active Substance: USTEKINUMAB
     Indication: Rheumatoid arthritis
  1322. USTEKINUMAB [Suspect]
     Active Substance: USTEKINUMAB
  1323. USTEKINUMAB [Suspect]
     Active Substance: USTEKINUMAB
     Route: 058
  1324. USTEKINUMAB [Suspect]
     Active Substance: USTEKINUMAB
     Route: 058
  1325. USTEKINUMAB [Suspect]
     Active Substance: USTEKINUMAB
  1326. USTEKINUMAB [Suspect]
     Active Substance: USTEKINUMAB
  1327. USTEKINUMAB [Suspect]
     Active Substance: USTEKINUMAB
     Route: 058
  1328. USTEKINUMAB [Suspect]
     Active Substance: USTEKINUMAB
     Route: 058
  1329. ZESTRIL [Concomitant]
     Active Substance: LISINOPRIL
  1330. ZESTRIL [Concomitant]
     Active Substance: LISINOPRIL
     Route: 065
  1331. ZESTRIL [Concomitant]
     Active Substance: LISINOPRIL
     Route: 065
  1332. ZESTRIL [Concomitant]
     Active Substance: LISINOPRIL
  1333. VASCEPA [Concomitant]
     Active Substance: ICOSAPENT ETHYL
  1334. VASCEPA [Concomitant]
     Active Substance: ICOSAPENT ETHYL
     Route: 065
  1335. VASCEPA [Concomitant]
     Active Substance: ICOSAPENT ETHYL
     Route: 065
  1336. VASCEPA [Concomitant]
     Active Substance: ICOSAPENT ETHYL
  1337. SULFASALAZINE [Concomitant]
     Active Substance: SULFASALAZINE
     Indication: Product used for unknown indication
  1338. SULFASALAZINE [Concomitant]
     Active Substance: SULFASALAZINE
     Route: 065
  1339. SULFASALAZINE [Concomitant]
     Active Substance: SULFASALAZINE
     Route: 065
  1340. SULFASALAZINE [Concomitant]
     Active Substance: SULFASALAZINE
  1341. PANTOPRAZOLE [Concomitant]
     Active Substance: PANTOPRAZOLE
     Indication: Product used for unknown indication
  1342. PANTOPRAZOLE [Concomitant]
     Active Substance: PANTOPRAZOLE
     Route: 065
  1343. PANTOPRAZOLE [Concomitant]
     Active Substance: PANTOPRAZOLE
     Route: 065
  1344. PANTOPRAZOLE [Concomitant]
     Active Substance: PANTOPRAZOLE
  1345. MAGNESIUM [Concomitant]
     Active Substance: MAGNESIUM
     Indication: Product used for unknown indication
  1346. MAGNESIUM [Concomitant]
     Active Substance: MAGNESIUM
     Route: 065
  1347. MAGNESIUM [Concomitant]
     Active Substance: MAGNESIUM
     Route: 065
  1348. MAGNESIUM [Concomitant]
     Active Substance: MAGNESIUM
  1349. QUETIAPINE [Concomitant]
     Active Substance: QUETIAPINE
     Indication: Product used for unknown indication
  1350. QUETIAPINE [Concomitant]
     Active Substance: QUETIAPINE
     Route: 065
  1351. QUETIAPINE [Concomitant]
     Active Substance: QUETIAPINE
     Route: 065
  1352. QUETIAPINE [Concomitant]
     Active Substance: QUETIAPINE
  1353. RAMIPRIL [Concomitant]
     Active Substance: RAMIPRIL
     Indication: Product used for unknown indication
  1354. RAMIPRIL [Concomitant]
     Active Substance: RAMIPRIL
     Route: 065
  1355. RAMIPRIL [Concomitant]
     Active Substance: RAMIPRIL
     Route: 065
  1356. RAMIPRIL [Concomitant]
     Active Substance: RAMIPRIL
  1357. RISEDRONATE SODIUM [Concomitant]
     Active Substance: RISEDRONATE SODIUM
     Indication: Product used for unknown indication
  1358. RISEDRONATE SODIUM [Concomitant]
     Active Substance: RISEDRONATE SODIUM
     Route: 065
  1359. RISEDRONATE SODIUM [Concomitant]
     Active Substance: RISEDRONATE SODIUM
     Route: 065
  1360. RISEDRONATE SODIUM [Concomitant]
     Active Substance: RISEDRONATE SODIUM
  1361. IBUPROFEN [Concomitant]
     Active Substance: IBUPROFEN
     Indication: Product used for unknown indication
  1362. IBUPROFEN [Concomitant]
     Active Substance: IBUPROFEN
     Route: 065
  1363. IBUPROFEN [Concomitant]
     Active Substance: IBUPROFEN
     Route: 065
  1364. IBUPROFEN [Concomitant]
     Active Substance: IBUPROFEN
  1365. LISINOPRIL [Concomitant]
     Active Substance: LISINOPRIL
     Indication: Product used for unknown indication
  1366. LISINOPRIL [Concomitant]
     Active Substance: LISINOPRIL
     Route: 065
  1367. LISINOPRIL [Concomitant]
     Active Substance: LISINOPRIL
     Route: 065
  1368. LISINOPRIL [Concomitant]
     Active Substance: LISINOPRIL
  1369. LISINOPRIL [Concomitant]
     Active Substance: LISINOPRIL
     Indication: Product used for unknown indication
  1370. LISINOPRIL [Concomitant]
     Active Substance: LISINOPRIL
     Route: 065
  1371. LISINOPRIL [Concomitant]
     Active Substance: LISINOPRIL
     Route: 065
  1372. LISINOPRIL [Concomitant]
     Active Substance: LISINOPRIL
  1373. ATIVAN [Concomitant]
     Active Substance: LORAZEPAM
  1374. ATIVAN [Concomitant]
     Active Substance: LORAZEPAM
     Route: 065
  1375. ATIVAN [Concomitant]
     Active Substance: LORAZEPAM
     Route: 065
  1376. ATIVAN [Concomitant]
     Active Substance: LORAZEPAM
  1377. CODEINE [Concomitant]
     Active Substance: CODEINE
  1378. CODEINE [Concomitant]
     Active Substance: CODEINE
     Route: 065
  1379. CODEINE [Concomitant]
     Active Substance: CODEINE
     Route: 065
  1380. CODEINE [Concomitant]
     Active Substance: CODEINE
  1381. DESOGESTREL\ETHINYL ESTRADIOL [Concomitant]
     Active Substance: DESOGESTREL\ETHINYL ESTRADIOL
  1382. DESOGESTREL\ETHINYL ESTRADIOL [Concomitant]
     Active Substance: DESOGESTREL\ETHINYL ESTRADIOL
     Route: 065
  1383. DESOGESTREL\ETHINYL ESTRADIOL [Concomitant]
     Active Substance: DESOGESTREL\ETHINYL ESTRADIOL
     Route: 065
  1384. DESOGESTREL\ETHINYL ESTRADIOL [Concomitant]
     Active Substance: DESOGESTREL\ETHINYL ESTRADIOL
  1385. LORAZEPAM [Concomitant]
     Active Substance: LORAZEPAM
  1386. LORAZEPAM [Concomitant]
     Active Substance: LORAZEPAM
     Route: 065
  1387. LORAZEPAM [Concomitant]
     Active Substance: LORAZEPAM
     Route: 065
  1388. LORAZEPAM [Concomitant]
     Active Substance: LORAZEPAM
  1389. RITUXIMAB [Suspect]
     Active Substance: RITUXIMAB

REACTIONS (113)
  - Breast cancer stage III [Fatal]
  - Abdominal discomfort [Fatal]
  - Arthralgia [Fatal]
  - Arthropathy [Fatal]
  - Asthenia [Fatal]
  - Blister [Fatal]
  - Delirium [Fatal]
  - Diarrhoea [Fatal]
  - Adjustment disorder with depressed mood [Fatal]
  - Anti-cyclic citrullinated peptide antibody positive [Fatal]
  - Blood cholesterol increased [Fatal]
  - Condition aggravated [Fatal]
  - Disability [Fatal]
  - Dislocation of vertebra [Fatal]
  - Drug hypersensitivity [Fatal]
  - Drug intolerance [Fatal]
  - Duodenal ulcer perforation [Fatal]
  - Fatigue [Fatal]
  - Fibromyalgia [Fatal]
  - Gait disturbance [Fatal]
  - General physical health deterioration [Fatal]
  - Glossodynia [Fatal]
  - Hand deformity [Fatal]
  - Headache [Fatal]
  - Helicobacter infection [Fatal]
  - Hepatic enzyme increased [Fatal]
  - Hip arthroplasty [Fatal]
  - Infection [Fatal]
  - Infusion related reaction [Fatal]
  - Injury [Fatal]
  - Joint range of motion decreased [Fatal]
  - Knee arthroplasty [Fatal]
  - Liver injury [Fatal]
  - Memory impairment [Fatal]
  - Mobility decreased [Fatal]
  - Musculoskeletal stiffness [Fatal]
  - Oedema [Fatal]
  - Pain [Fatal]
  - Pemphigus [Fatal]
  - Pericarditis [Fatal]
  - Psoriatic arthropathy [Fatal]
  - Rash [Fatal]
  - Rheumatic fever [Fatal]
  - Sleep disorder [Fatal]
  - Swelling [Fatal]
  - Swollen joint count increased [Fatal]
  - Synovitis [Fatal]
  - Systemic lupus erythematosus [Fatal]
  - Type 2 diabetes mellitus [Fatal]
  - Walking aid user [Fatal]
  - Weight decreased [Fatal]
  - Wheezing [Fatal]
  - Wound [Fatal]
  - Wound infection [Fatal]
  - Alopecia [Fatal]
  - Vomiting [Fatal]
  - Hypertension [Fatal]
  - Nausea [Fatal]
  - Rheumatoid arthritis [Fatal]
  - Treatment failure [Fatal]
  - Treatment noncompliance [Fatal]
  - Product use issue [Fatal]
  - Asthma [Fatal]
  - Autoimmune disorder [Fatal]
  - Chest pain [Fatal]
  - Confusional state [Fatal]
  - Contusion [Fatal]
  - Decreased appetite [Fatal]
  - Deep vein thrombosis postoperative [Fatal]
  - Dizziness [Fatal]
  - Dyspepsia [Fatal]
  - Folliculitis [Fatal]
  - Gait inability [Fatal]
  - Hypoaesthesia [Fatal]
  - Impaired healing [Fatal]
  - Irritable bowel syndrome [Fatal]
  - Loss of personal independence in daily activities [Fatal]
  - Lower limb fracture [Fatal]
  - Muscle injury [Fatal]
  - Nasopharyngitis [Fatal]
  - Pneumonia [Fatal]
  - Pruritus [Fatal]
  - Pulmonary fibrosis [Fatal]
  - Pyrexia [Fatal]
  - Road traffic accident [Fatal]
  - Sciatica [Fatal]
  - Sinusitis [Fatal]
  - Sleep disorder due to general medical condition, insomnia type [Fatal]
  - Stomatitis [Fatal]
  - Urticaria [Fatal]
  - Weight increased [Fatal]
  - C-reactive protein increased [Fatal]
  - Hypercholesterolaemia [Fatal]
  - Hypersensitivity [Fatal]
  - Joint swelling [Fatal]
  - Musculoskeletal pain [Fatal]
  - Osteoarthritis [Fatal]
  - Peripheral swelling [Fatal]
  - Rheumatoid factor positive [Fatal]
  - Adverse event [Fatal]
  - Adverse drug reaction [Fatal]
  - Off label use [Fatal]
  - Drug ineffective [Fatal]
  - Incorrect route of product administration [Fatal]
  - Product use in unapproved indication [Fatal]
  - Exposure during pregnancy [Fatal]
  - Prescribed overdose [Fatal]
  - Contraindicated product administered [Fatal]
  - Prescribed underdose [Fatal]
  - Maternal exposure during pregnancy [Fatal]
  - Therapeutic product effect decreased [Fatal]
  - Intentional product use issue [Fatal]
  - Overlap syndrome [Fatal]
